FAERS Safety Report 24678744 (Version 12)
Quarter: 2025Q2

REPORT INFORMATION
  Report Type: Other
  Country: GB (occurrence: GB)
  Receive Date: 20241129
  Receipt Date: 20250620
  Transmission Date: 20250716
  Serious: Yes (Other)
  Sender: STRIDES
  Company Number: GB-TILLOMEDPR-2024-EPL-005196

PATIENT
  Age: 41 Year
  Sex: Female

DRUGS (2071)
  1. MYCOPHENOLATE MOFETIL [Suspect]
     Active Substance: MYCOPHENOLATE MOFETIL
     Indication: Product used for unknown indication
     Route: 065
  2. MYCOPHENOLATE MOFETIL [Suspect]
     Active Substance: MYCOPHENOLATE MOFETIL
     Route: 065
  3. MYCOPHENOLATE MOFETIL [Suspect]
     Active Substance: MYCOPHENOLATE MOFETIL
     Route: 065
  4. MYCOPHENOLATE MOFETIL [Suspect]
     Active Substance: MYCOPHENOLATE MOFETIL
     Route: 065
  5. MYCOPHENOLATE MOFETIL [Suspect]
     Active Substance: MYCOPHENOLATE MOFETIL
     Route: 065
  6. MYCOPHENOLATE MOFETIL [Suspect]
     Active Substance: MYCOPHENOLATE MOFETIL
     Route: 065
  7. MYCOPHENOLATE MOFETIL [Suspect]
     Active Substance: MYCOPHENOLATE MOFETIL
     Route: 065
  8. MYCOPHENOLATE MOFETIL [Suspect]
     Active Substance: MYCOPHENOLATE MOFETIL
     Route: 065
  9. MYCOPHENOLATE MOFETIL [Suspect]
     Active Substance: MYCOPHENOLATE MOFETIL
     Route: 065
  10. MYCOPHENOLATE MOFETIL [Suspect]
     Active Substance: MYCOPHENOLATE MOFETIL
     Route: 065
  11. MYCOPHENOLATE MOFETIL [Suspect]
     Active Substance: MYCOPHENOLATE MOFETIL
     Route: 065
  12. MYCOPHENOLATE MOFETIL [Suspect]
     Active Substance: MYCOPHENOLATE MOFETIL
     Route: 065
  13. MYCOPHENOLATE MOFETIL [Suspect]
     Active Substance: MYCOPHENOLATE MOFETIL
     Route: 065
  14. MYCOPHENOLATE MOFETIL [Suspect]
     Active Substance: MYCOPHENOLATE MOFETIL
     Route: 065
  15. MYCOPHENOLATE MOFETIL [Suspect]
     Active Substance: MYCOPHENOLATE MOFETIL
     Route: 065
  16. PREDNISOLONE [Suspect]
     Active Substance: PREDNISOLONE
     Indication: Chronic spontaneous urticaria
     Route: 065
  17. PREDNISOLONE [Suspect]
     Active Substance: PREDNISOLONE
     Route: 065
  18. PREDNISOLONE [Suspect]
     Active Substance: PREDNISOLONE
     Route: 065
  19. PREDNISOLONE [Suspect]
     Active Substance: PREDNISOLONE
     Route: 065
  20. PREDNISOLONE [Suspect]
     Active Substance: PREDNISOLONE
     Route: 065
  21. PREDNISOLONE [Suspect]
     Active Substance: PREDNISOLONE
     Route: 065
  22. CYCLOSPORINE [Suspect]
     Active Substance: CYCLOSPORINE
     Indication: Product used for unknown indication
     Route: 065
  23. CYCLOSPORINE [Suspect]
     Active Substance: CYCLOSPORINE
     Route: 065
  24. CYCLOSPORINE [Suspect]
     Active Substance: CYCLOSPORINE
     Route: 065
  25. CYCLOSPORINE [Suspect]
     Active Substance: CYCLOSPORINE
     Route: 065
  26. CYCLOSPORINE [Suspect]
     Active Substance: CYCLOSPORINE
     Route: 065
  27. CYCLOSPORINE [Suspect]
     Active Substance: CYCLOSPORINE
     Route: 065
  28. CYCLOSPORINE [Suspect]
     Active Substance: CYCLOSPORINE
     Route: 065
  29. CYCLOSPORINE [Suspect]
     Active Substance: CYCLOSPORINE
     Route: 065
  30. CYCLOSPORINE [Suspect]
     Active Substance: CYCLOSPORINE
     Route: 065
  31. CYCLOSPORINE [Suspect]
     Active Substance: CYCLOSPORINE
     Route: 065
  32. CYCLOSPORINE [Suspect]
     Active Substance: CYCLOSPORINE
     Route: 065
  33. CYCLOSPORINE [Suspect]
     Active Substance: CYCLOSPORINE
     Route: 065
  34. CYCLOSPORINE [Suspect]
     Active Substance: CYCLOSPORINE
     Route: 065
  35. CYCLOSPORINE [Suspect]
     Active Substance: CYCLOSPORINE
     Route: 065
  36. CYCLOSPORINE [Suspect]
     Active Substance: CYCLOSPORINE
     Route: 065
  37. CYCLOSPORINE [Suspect]
     Active Substance: CYCLOSPORINE
     Route: 065
  38. CYCLOSPORINE [Suspect]
     Active Substance: CYCLOSPORINE
     Route: 065
  39. CYCLOSPORINE [Suspect]
     Active Substance: CYCLOSPORINE
     Route: 065
  40. CYCLOSPORINE [Suspect]
     Active Substance: CYCLOSPORINE
     Route: 065
  41. CYCLOSPORINE [Suspect]
     Active Substance: CYCLOSPORINE
     Route: 065
  42. CYCLOSPORINE [Suspect]
     Active Substance: CYCLOSPORINE
     Route: 065
  43. CYCLOSPORINE [Suspect]
     Active Substance: CYCLOSPORINE
     Route: 065
  44. CYCLOSPORINE [Suspect]
     Active Substance: CYCLOSPORINE
     Route: 065
  45. CYCLOSPORINE [Suspect]
     Active Substance: CYCLOSPORINE
     Route: 065
  46. CYCLOSPORINE [Suspect]
     Active Substance: CYCLOSPORINE
     Route: 065
  47. CYCLOSPORINE [Suspect]
     Active Substance: CYCLOSPORINE
     Route: 065
  48. CYCLOSPORINE [Suspect]
     Active Substance: CYCLOSPORINE
     Route: 065
  49. CYCLOSPORINE [Suspect]
     Active Substance: CYCLOSPORINE
     Route: 065
  50. CYCLOSPORINE [Suspect]
     Active Substance: CYCLOSPORINE
     Route: 065
  51. CYCLOSPORINE [Suspect]
     Active Substance: CYCLOSPORINE
     Route: 065
  52. CYCLOSPORINE [Suspect]
     Active Substance: CYCLOSPORINE
     Route: 065
  53. CYCLOSPORINE [Suspect]
     Active Substance: CYCLOSPORINE
     Route: 065
  54. CYCLOSPORINE [Suspect]
     Active Substance: CYCLOSPORINE
     Route: 065
  55. CYCLOSPORINE [Suspect]
     Active Substance: CYCLOSPORINE
     Route: 065
  56. CYCLOSPORINE [Suspect]
     Active Substance: CYCLOSPORINE
     Route: 065
  57. CYCLOSPORINE [Suspect]
     Active Substance: CYCLOSPORINE
     Route: 065
  58. CYCLOSPORINE [Suspect]
     Active Substance: CYCLOSPORINE
     Route: 065
  59. CYCLOSPORINE [Suspect]
     Active Substance: CYCLOSPORINE
     Route: 065
  60. CYCLOSPORINE [Suspect]
     Active Substance: CYCLOSPORINE
     Route: 065
  61. CYCLOSPORINE [Suspect]
     Active Substance: CYCLOSPORINE
     Route: 065
  62. CYCLOSPORINE [Suspect]
     Active Substance: CYCLOSPORINE
     Route: 065
  63. CYCLOSPORINE [Suspect]
     Active Substance: CYCLOSPORINE
     Route: 065
  64. CYCLOSPORINE [Suspect]
     Active Substance: CYCLOSPORINE
     Route: 065
  65. CYCLOSPORINE [Suspect]
     Active Substance: CYCLOSPORINE
     Route: 065
  66. CYCLOSPORINE [Suspect]
     Active Substance: CYCLOSPORINE
     Route: 065
  67. CYCLOSPORINE [Suspect]
     Active Substance: CYCLOSPORINE
     Route: 065
  68. CYCLOSPORINE [Suspect]
     Active Substance: CYCLOSPORINE
     Route: 065
  69. CYCLOSPORINE [Suspect]
     Active Substance: CYCLOSPORINE
     Route: 065
  70. CYCLOSPORINE [Suspect]
     Active Substance: CYCLOSPORINE
     Route: 065
  71. CYCLOSPORINE [Suspect]
     Active Substance: CYCLOSPORINE
     Route: 065
  72. AZATHIOPRINE [Suspect]
     Active Substance: AZATHIOPRINE
     Indication: Product used for unknown indication
     Route: 065
  73. AZATHIOPRINE [Suspect]
     Active Substance: AZATHIOPRINE
     Route: 065
  74. AZATHIOPRINE [Suspect]
     Active Substance: AZATHIOPRINE
     Route: 065
  75. AZATHIOPRINE [Suspect]
     Active Substance: AZATHIOPRINE
     Route: 065
  76. AZATHIOPRINE [Suspect]
     Active Substance: AZATHIOPRINE
     Route: 065
  77. AZATHIOPRINE [Suspect]
     Active Substance: AZATHIOPRINE
     Route: 065
  78. AZATHIOPRINE [Suspect]
     Active Substance: AZATHIOPRINE
     Route: 065
  79. AZATHIOPRINE [Suspect]
     Active Substance: AZATHIOPRINE
     Route: 065
  80. AZATHIOPRINE [Suspect]
     Active Substance: AZATHIOPRINE
     Route: 065
  81. AZATHIOPRINE [Suspect]
     Active Substance: AZATHIOPRINE
     Route: 065
  82. AZATHIOPRINE [Suspect]
     Active Substance: AZATHIOPRINE
     Route: 065
  83. AZATHIOPRINE [Suspect]
     Active Substance: AZATHIOPRINE
     Route: 065
  84. AZATHIOPRINE [Suspect]
     Active Substance: AZATHIOPRINE
     Route: 065
  85. AZATHIOPRINE [Suspect]
     Active Substance: AZATHIOPRINE
     Route: 065
  86. AZATHIOPRINE [Suspect]
     Active Substance: AZATHIOPRINE
     Route: 065
  87. AZATHIOPRINE [Suspect]
     Active Substance: AZATHIOPRINE
     Route: 065
  88. AZATHIOPRINE [Suspect]
     Active Substance: AZATHIOPRINE
     Route: 065
  89. AZATHIOPRINE [Suspect]
     Active Substance: AZATHIOPRINE
     Route: 065
  90. AZATHIOPRINE [Suspect]
     Active Substance: AZATHIOPRINE
     Route: 065
  91. AZATHIOPRINE [Suspect]
     Active Substance: AZATHIOPRINE
     Route: 065
  92. AZATHIOPRINE [Suspect]
     Active Substance: AZATHIOPRINE
     Route: 065
  93. AZATHIOPRINE [Suspect]
     Active Substance: AZATHIOPRINE
     Route: 065
  94. AZATHIOPRINE [Suspect]
     Active Substance: AZATHIOPRINE
     Route: 065
  95. AZATHIOPRINE [Suspect]
     Active Substance: AZATHIOPRINE
     Route: 065
  96. AZATHIOPRINE [Suspect]
     Active Substance: AZATHIOPRINE
  97. AZATHIOPRINE [Suspect]
     Active Substance: AZATHIOPRINE
     Route: 065
  98. AZATHIOPRINE [Suspect]
     Active Substance: AZATHIOPRINE
     Route: 065
  99. AZATHIOPRINE [Suspect]
     Active Substance: AZATHIOPRINE
     Route: 065
  100. AZATHIOPRINE [Suspect]
     Active Substance: AZATHIOPRINE
     Route: 065
  101. AZATHIOPRINE [Suspect]
     Active Substance: AZATHIOPRINE
     Route: 065
  102. AZATHIOPRINE [Suspect]
     Active Substance: AZATHIOPRINE
     Route: 065
  103. AZATHIOPRINE [Suspect]
     Active Substance: AZATHIOPRINE
     Route: 065
  104. AZATHIOPRINE [Suspect]
     Active Substance: AZATHIOPRINE
     Route: 065
  105. AZATHIOPRINE [Suspect]
     Active Substance: AZATHIOPRINE
     Route: 065
  106. AZATHIOPRINE [Suspect]
     Active Substance: AZATHIOPRINE
     Route: 065
  107. AZATHIOPRINE [Suspect]
     Active Substance: AZATHIOPRINE
     Route: 065
  108. AZATHIOPRINE [Suspect]
     Active Substance: AZATHIOPRINE
     Route: 065
  109. AZATHIOPRINE [Suspect]
     Active Substance: AZATHIOPRINE
     Route: 065
  110. AZATHIOPRINE [Suspect]
     Active Substance: AZATHIOPRINE
     Route: 065
  111. AZATHIOPRINE [Suspect]
     Active Substance: AZATHIOPRINE
     Route: 065
  112. AZATHIOPRINE [Suspect]
     Active Substance: AZATHIOPRINE
     Route: 065
  113. AZATHIOPRINE [Suspect]
     Active Substance: AZATHIOPRINE
     Route: 065
  114. AZATHIOPRINE [Suspect]
     Active Substance: AZATHIOPRINE
     Route: 065
  115. AZATHIOPRINE [Suspect]
     Active Substance: AZATHIOPRINE
     Route: 065
  116. AZATHIOPRINE [Suspect]
     Active Substance: AZATHIOPRINE
     Route: 065
  117. AZATHIOPRINE [Suspect]
     Active Substance: AZATHIOPRINE
     Route: 065
  118. AZATHIOPRINE [Suspect]
     Active Substance: AZATHIOPRINE
     Route: 065
  119. AZATHIOPRINE [Suspect]
     Active Substance: AZATHIOPRINE
     Route: 065
  120. AZATHIOPRINE [Suspect]
     Active Substance: AZATHIOPRINE
     Route: 065
  121. AZATHIOPRINE [Suspect]
     Active Substance: AZATHIOPRINE
     Route: 065
  122. DAPSONE [Suspect]
     Active Substance: DAPSONE
     Indication: Product used for unknown indication
     Route: 065
  123. DAPSONE [Suspect]
     Active Substance: DAPSONE
     Indication: Product used for unknown indication
     Route: 065
  124. DAPSONE [Suspect]
     Active Substance: DAPSONE
     Indication: Antiphospholipid syndrome
     Route: 065
  125. DAPSONE [Suspect]
     Active Substance: DAPSONE
     Indication: Antiphospholipid syndrome
     Route: 065
  126. DAPSONE [Suspect]
     Active Substance: DAPSONE
     Route: 065
  127. DAPSONE [Suspect]
     Active Substance: DAPSONE
     Route: 065
  128. DAPSONE [Suspect]
     Active Substance: DAPSONE
     Route: 065
  129. DAPSONE [Suspect]
     Active Substance: DAPSONE
     Route: 065
  130. DAPSONE [Suspect]
     Active Substance: DAPSONE
     Route: 065
  131. DAPSONE [Suspect]
     Active Substance: DAPSONE
     Route: 065
  132. DAPSONE [Suspect]
     Active Substance: DAPSONE
     Route: 065
  133. DAPSONE [Suspect]
     Active Substance: DAPSONE
     Route: 065
  134. DAPSONE [Suspect]
     Active Substance: DAPSONE
     Route: 065
  135. DAPSONE [Suspect]
     Active Substance: DAPSONE
     Route: 065
  136. DAPSONE [Suspect]
     Active Substance: DAPSONE
     Route: 065
  137. DAPSONE [Suspect]
     Active Substance: DAPSONE
     Route: 065
  138. DAPSONE [Suspect]
     Active Substance: DAPSONE
     Route: 065
  139. DAPSONE [Suspect]
     Active Substance: DAPSONE
     Route: 065
  140. DAPSONE [Suspect]
     Active Substance: DAPSONE
     Route: 065
  141. DAPSONE [Suspect]
     Active Substance: DAPSONE
     Route: 065
  142. DAPSONE [Suspect]
     Active Substance: DAPSONE
     Route: 065
  143. DAPSONE [Suspect]
     Active Substance: DAPSONE
     Route: 065
  144. DAPSONE [Suspect]
     Active Substance: DAPSONE
     Route: 065
  145. DAPSONE [Suspect]
     Active Substance: DAPSONE
     Route: 065
  146. DAPSONE [Suspect]
     Active Substance: DAPSONE
     Route: 065
  147. DAPSONE [Suspect]
     Active Substance: DAPSONE
     Route: 065
  148. DAPSONE [Suspect]
     Active Substance: DAPSONE
     Route: 065
  149. DAPSONE [Suspect]
     Active Substance: DAPSONE
     Route: 065
  150. DAPSONE [Suspect]
     Active Substance: DAPSONE
     Route: 065
  151. DAPSONE [Suspect]
     Active Substance: DAPSONE
     Route: 065
  152. DAPSONE [Suspect]
     Active Substance: DAPSONE
     Route: 065
  153. DAPSONE [Suspect]
     Active Substance: DAPSONE
     Route: 065
  154. DAPSONE [Suspect]
     Active Substance: DAPSONE
     Route: 065
  155. DAPSONE [Suspect]
     Active Substance: DAPSONE
     Route: 065
  156. DAPSONE [Suspect]
     Active Substance: DAPSONE
     Route: 065
  157. DAPSONE [Suspect]
     Active Substance: DAPSONE
     Route: 065
  158. DAPSONE [Suspect]
     Active Substance: DAPSONE
     Route: 065
  159. DAPSONE [Suspect]
     Active Substance: DAPSONE
     Route: 065
  160. DAPSONE [Suspect]
     Active Substance: DAPSONE
     Route: 065
  161. DAPSONE [Suspect]
     Active Substance: DAPSONE
     Route: 065
  162. DAPSONE [Suspect]
     Active Substance: DAPSONE
     Route: 065
  163. DAPSONE [Suspect]
     Active Substance: DAPSONE
     Route: 065
  164. DAPSONE [Suspect]
     Active Substance: DAPSONE
     Route: 065
  165. DAPSONE [Suspect]
     Active Substance: DAPSONE
     Route: 065
  166. DAPSONE [Suspect]
     Active Substance: DAPSONE
     Route: 065
  167. DAPSONE [Suspect]
     Active Substance: DAPSONE
     Route: 065
  168. DAPSONE [Suspect]
     Active Substance: DAPSONE
     Route: 065
  169. DAPSONE [Suspect]
     Active Substance: DAPSONE
     Route: 065
  170. DAPSONE [Suspect]
     Active Substance: DAPSONE
     Route: 065
  171. DAPSONE [Suspect]
     Active Substance: DAPSONE
     Route: 065
  172. DAPSONE [Suspect]
     Active Substance: DAPSONE
  173. DAPSONE [Suspect]
     Active Substance: DAPSONE
  174. DAPSONE [Suspect]
     Active Substance: DAPSONE
  175. DAPSONE [Suspect]
     Active Substance: DAPSONE
  176. DAPSONE [Suspect]
     Active Substance: DAPSONE
  177. DAPSONE [Suspect]
     Active Substance: DAPSONE
  178. DAPSONE [Suspect]
     Active Substance: DAPSONE
  179. DAPSONE [Suspect]
     Active Substance: DAPSONE
  180. DAPSONE [Suspect]
     Active Substance: DAPSONE
  181. DAPSONE [Suspect]
     Active Substance: DAPSONE
  182. DAPSONE [Suspect]
     Active Substance: DAPSONE
  183. DAPSONE [Suspect]
     Active Substance: DAPSONE
  184. DAPSONE [Suspect]
     Active Substance: DAPSONE
  185. DAPSONE [Suspect]
     Active Substance: DAPSONE
  186. DAPSONE [Suspect]
     Active Substance: DAPSONE
  187. DAPSONE [Suspect]
     Active Substance: DAPSONE
  188. DAPSONE [Suspect]
     Active Substance: DAPSONE
  189. DAPSONE [Suspect]
     Active Substance: DAPSONE
  190. DAPSONE [Suspect]
     Active Substance: DAPSONE
  191. DAPSONE [Suspect]
     Active Substance: DAPSONE
  192. DAPSONE [Suspect]
     Active Substance: DAPSONE
  193. DAPSONE [Suspect]
     Active Substance: DAPSONE
  194. DAPSONE [Suspect]
     Active Substance: DAPSONE
  195. DAPSONE [Suspect]
     Active Substance: DAPSONE
  196. DAPSONE [Suspect]
     Active Substance: DAPSONE
  197. DAPSONE [Suspect]
     Active Substance: DAPSONE
  198. DAPSONE [Suspect]
     Active Substance: DAPSONE
  199. DAPSONE [Suspect]
     Active Substance: DAPSONE
  200. DAPSONE [Suspect]
     Active Substance: DAPSONE
  201. DAPSONE [Suspect]
     Active Substance: DAPSONE
  202. DAPSONE [Suspect]
     Active Substance: DAPSONE
  203. DAPSONE [Suspect]
     Active Substance: DAPSONE
  204. DAPSONE [Suspect]
     Active Substance: DAPSONE
  205. DAPSONE [Suspect]
     Active Substance: DAPSONE
  206. DAPSONE [Suspect]
     Active Substance: DAPSONE
  207. DAPSONE [Suspect]
     Active Substance: DAPSONE
  208. DAPSONE [Suspect]
     Active Substance: DAPSONE
  209. DAPSONE [Suspect]
     Active Substance: DAPSONE
  210. DAPSONE [Suspect]
     Active Substance: DAPSONE
  211. DAPSONE [Suspect]
     Active Substance: DAPSONE
  212. DAPSONE [Suspect]
     Active Substance: DAPSONE
  213. DAPSONE [Suspect]
     Active Substance: DAPSONE
  214. DAPSONE [Suspect]
     Active Substance: DAPSONE
  215. DAPSONE [Suspect]
     Active Substance: DAPSONE
  216. DAPSONE [Suspect]
     Active Substance: DAPSONE
  217. DAPSONE [Suspect]
     Active Substance: DAPSONE
  218. DAPSONE [Suspect]
     Active Substance: DAPSONE
  219. DAPSONE [Suspect]
     Active Substance: DAPSONE
  220. DAPSONE [Suspect]
     Active Substance: DAPSONE
  221. DAPSONE [Suspect]
     Active Substance: DAPSONE
  222. DAPSONE [Suspect]
     Active Substance: DAPSONE
  223. DAPSONE [Suspect]
     Active Substance: DAPSONE
  224. DAPSONE [Suspect]
     Active Substance: DAPSONE
  225. DAPSONE [Suspect]
     Active Substance: DAPSONE
  226. DAPSONE [Suspect]
     Active Substance: DAPSONE
  227. DAPSONE [Suspect]
     Active Substance: DAPSONE
  228. DAPSONE [Suspect]
     Active Substance: DAPSONE
  229. DAPSONE [Suspect]
     Active Substance: DAPSONE
  230. DAPSONE [Suspect]
     Active Substance: DAPSONE
  231. DAPSONE [Suspect]
     Active Substance: DAPSONE
  232. DAPSONE [Suspect]
     Active Substance: DAPSONE
  233. DAPSONE [Suspect]
     Active Substance: DAPSONE
  234. DAPSONE [Suspect]
     Active Substance: DAPSONE
  235. DAPSONE [Suspect]
     Active Substance: DAPSONE
  236. DAPSONE [Suspect]
     Active Substance: DAPSONE
  237. DAPSONE [Suspect]
     Active Substance: DAPSONE
  238. DAPSONE [Suspect]
     Active Substance: DAPSONE
  239. DAPSONE [Suspect]
     Active Substance: DAPSONE
  240. DAPSONE [Suspect]
     Active Substance: DAPSONE
  241. DAPSONE [Suspect]
     Active Substance: DAPSONE
  242. DAPSONE [Suspect]
     Active Substance: DAPSONE
  243. DAPSONE [Suspect]
     Active Substance: DAPSONE
  244. DAPSONE [Suspect]
     Active Substance: DAPSONE
  245. DAPSONE [Suspect]
     Active Substance: DAPSONE
  246. DAPSONE [Suspect]
     Active Substance: DAPSONE
  247. DAPSONE [Suspect]
     Active Substance: DAPSONE
  248. DAPSONE [Suspect]
     Active Substance: DAPSONE
  249. DAPSONE [Suspect]
     Active Substance: DAPSONE
  250. DAPSONE [Suspect]
     Active Substance: DAPSONE
  251. DAPSONE [Suspect]
     Active Substance: DAPSONE
  252. DAPSONE [Suspect]
     Active Substance: DAPSONE
  253. DAPSONE [Suspect]
     Active Substance: DAPSONE
  254. DAPSONE [Suspect]
     Active Substance: DAPSONE
  255. DAPSONE [Suspect]
     Active Substance: DAPSONE
  256. DAPSONE [Suspect]
     Active Substance: DAPSONE
  257. DAPSONE [Suspect]
     Active Substance: DAPSONE
  258. DAPSONE [Suspect]
     Active Substance: DAPSONE
  259. DAPSONE [Suspect]
     Active Substance: DAPSONE
  260. DAPSONE [Suspect]
     Active Substance: DAPSONE
  261. DAPSONE [Suspect]
     Active Substance: DAPSONE
  262. DAPSONE [Suspect]
     Active Substance: DAPSONE
  263. DAPSONE [Suspect]
     Active Substance: DAPSONE
  264. DAPSONE [Suspect]
     Active Substance: DAPSONE
  265. DAPSONE [Suspect]
     Active Substance: DAPSONE
  266. DAPSONE [Suspect]
     Active Substance: DAPSONE
  267. DAPSONE [Suspect]
     Active Substance: DAPSONE
  268. DAPSONE [Suspect]
     Active Substance: DAPSONE
  269. DAPSONE [Suspect]
     Active Substance: DAPSONE
  270. DAPSONE [Suspect]
     Active Substance: DAPSONE
  271. DAPSONE [Suspect]
     Active Substance: DAPSONE
  272. DAPSONE [Suspect]
     Active Substance: DAPSONE
  273. DAPSONE [Suspect]
     Active Substance: DAPSONE
  274. DAPSONE [Suspect]
     Active Substance: DAPSONE
  275. DAPSONE [Suspect]
     Active Substance: DAPSONE
  276. DAPSONE [Suspect]
     Active Substance: DAPSONE
  277. DAPSONE [Suspect]
     Active Substance: DAPSONE
  278. DAPSONE [Suspect]
     Active Substance: DAPSONE
  279. DAPSONE [Suspect]
     Active Substance: DAPSONE
  280. DAPSONE [Suspect]
     Active Substance: DAPSONE
  281. DAPSONE [Suspect]
     Active Substance: DAPSONE
  282. DAPSONE [Suspect]
     Active Substance: DAPSONE
  283. DAPSONE [Suspect]
     Active Substance: DAPSONE
  284. DAPSONE [Suspect]
     Active Substance: DAPSONE
  285. DAPSONE [Suspect]
     Active Substance: DAPSONE
  286. DAPSONE [Suspect]
     Active Substance: DAPSONE
  287. DAPSONE [Suspect]
     Active Substance: DAPSONE
  288. DAPSONE [Suspect]
     Active Substance: DAPSONE
  289. DAPSONE [Suspect]
     Active Substance: DAPSONE
  290. DAPSONE [Suspect]
     Active Substance: DAPSONE
  291. DAPSONE [Suspect]
     Active Substance: DAPSONE
  292. DAPSONE [Suspect]
     Active Substance: DAPSONE
  293. DAPSONE [Suspect]
     Active Substance: DAPSONE
  294. DAPSONE [Suspect]
     Active Substance: DAPSONE
  295. DAPSONE [Suspect]
     Active Substance: DAPSONE
  296. DAPSONE [Suspect]
     Active Substance: DAPSONE
  297. DAPSONE [Suspect]
     Active Substance: DAPSONE
  298. DAPSONE [Suspect]
     Active Substance: DAPSONE
  299. DAPSONE [Suspect]
     Active Substance: DAPSONE
  300. DAPSONE [Suspect]
     Active Substance: DAPSONE
  301. DAPSONE [Suspect]
     Active Substance: DAPSONE
  302. DAPSONE [Suspect]
     Active Substance: DAPSONE
  303. DAPSONE [Suspect]
     Active Substance: DAPSONE
  304. DAPSONE [Suspect]
     Active Substance: DAPSONE
  305. DAPSONE [Suspect]
     Active Substance: DAPSONE
  306. DAPSONE [Suspect]
     Active Substance: DAPSONE
  307. DAPSONE [Suspect]
     Active Substance: DAPSONE
  308. DAPSONE [Suspect]
     Active Substance: DAPSONE
  309. DAPSONE [Suspect]
     Active Substance: DAPSONE
  310. DAPSONE [Suspect]
     Active Substance: DAPSONE
  311. DAPSONE [Suspect]
     Active Substance: DAPSONE
  312. DAPSONE [Suspect]
     Active Substance: DAPSONE
  313. DAPSONE [Suspect]
     Active Substance: DAPSONE
  314. DAPSONE [Suspect]
     Active Substance: DAPSONE
  315. DAPSONE [Suspect]
     Active Substance: DAPSONE
  316. DAPSONE [Suspect]
     Active Substance: DAPSONE
  317. OMALIZUMAB [Suspect]
     Active Substance: OMALIZUMAB
     Indication: Chronic spontaneous urticaria
     Route: 065
  318. OMALIZUMAB [Suspect]
     Active Substance: OMALIZUMAB
     Route: 065
  319. OMALIZUMAB [Suspect]
     Active Substance: OMALIZUMAB
     Route: 065
  320. OMALIZUMAB [Suspect]
     Active Substance: OMALIZUMAB
     Route: 065
  321. OMALIZUMAB [Suspect]
     Active Substance: OMALIZUMAB
     Route: 065
  322. OMALIZUMAB [Suspect]
     Active Substance: OMALIZUMAB
     Route: 065
  323. OMALIZUMAB [Suspect]
     Active Substance: OMALIZUMAB
     Route: 065
  324. OMALIZUMAB [Suspect]
     Active Substance: OMALIZUMAB
     Route: 065
  325. OMALIZUMAB [Suspect]
     Active Substance: OMALIZUMAB
     Route: 065
  326. OMALIZUMAB [Suspect]
     Active Substance: OMALIZUMAB
     Route: 065
  327. OMALIZUMAB [Suspect]
     Active Substance: OMALIZUMAB
     Route: 065
  328. OMALIZUMAB [Suspect]
     Active Substance: OMALIZUMAB
     Route: 065
  329. OMALIZUMAB [Suspect]
     Active Substance: OMALIZUMAB
     Route: 065
  330. OMALIZUMAB [Suspect]
     Active Substance: OMALIZUMAB
     Route: 065
  331. OMALIZUMAB [Suspect]
     Active Substance: OMALIZUMAB
     Route: 065
  332. OMALIZUMAB [Suspect]
     Active Substance: OMALIZUMAB
     Route: 065
  333. OMALIZUMAB [Suspect]
     Active Substance: OMALIZUMAB
     Route: 065
  334. OMALIZUMAB [Suspect]
     Active Substance: OMALIZUMAB
     Route: 065
  335. OMALIZUMAB [Suspect]
     Active Substance: OMALIZUMAB
     Route: 065
  336. OMALIZUMAB [Suspect]
     Active Substance: OMALIZUMAB
     Route: 065
  337. OMALIZUMAB [Suspect]
     Active Substance: OMALIZUMAB
     Route: 065
  338. OMALIZUMAB [Suspect]
     Active Substance: OMALIZUMAB
     Route: 065
  339. OMALIZUMAB [Suspect]
     Active Substance: OMALIZUMAB
     Route: 065
  340. OMALIZUMAB [Suspect]
     Active Substance: OMALIZUMAB
     Route: 065
  341. OMALIZUMAB [Suspect]
     Active Substance: OMALIZUMAB
     Route: 065
  342. OMALIZUMAB [Suspect]
     Active Substance: OMALIZUMAB
     Route: 065
  343. OMALIZUMAB [Suspect]
     Active Substance: OMALIZUMAB
     Route: 065
  344. OMALIZUMAB [Suspect]
     Active Substance: OMALIZUMAB
     Route: 065
  345. OMALIZUMAB [Suspect]
     Active Substance: OMALIZUMAB
     Route: 065
  346. OMALIZUMAB [Suspect]
     Active Substance: OMALIZUMAB
     Route: 065
  347. OMALIZUMAB [Suspect]
     Active Substance: OMALIZUMAB
     Route: 065
  348. OMALIZUMAB [Suspect]
     Active Substance: OMALIZUMAB
     Route: 065
  349. OMALIZUMAB [Suspect]
     Active Substance: OMALIZUMAB
     Route: 065
  350. OMALIZUMAB [Suspect]
     Active Substance: OMALIZUMAB
     Route: 065
  351. OMALIZUMAB [Suspect]
     Active Substance: OMALIZUMAB
     Route: 065
  352. OMALIZUMAB [Suspect]
     Active Substance: OMALIZUMAB
     Route: 065
  353. OMALIZUMAB [Suspect]
     Active Substance: OMALIZUMAB
     Route: 065
  354. OMALIZUMAB [Suspect]
     Active Substance: OMALIZUMAB
     Route: 065
  355. OMALIZUMAB [Suspect]
     Active Substance: OMALIZUMAB
     Route: 065
  356. OMALIZUMAB [Suspect]
     Active Substance: OMALIZUMAB
     Route: 065
  357. OMALIZUMAB [Suspect]
     Active Substance: OMALIZUMAB
     Route: 065
  358. OMALIZUMAB [Suspect]
     Active Substance: OMALIZUMAB
     Route: 065
  359. OMALIZUMAB [Suspect]
     Active Substance: OMALIZUMAB
     Route: 065
  360. OMALIZUMAB [Suspect]
     Active Substance: OMALIZUMAB
     Route: 065
  361. OMALIZUMAB [Suspect]
     Active Substance: OMALIZUMAB
     Route: 065
  362. OMALIZUMAB [Suspect]
     Active Substance: OMALIZUMAB
     Route: 065
  363. OMALIZUMAB [Suspect]
     Active Substance: OMALIZUMAB
     Route: 065
  364. OMALIZUMAB [Suspect]
     Active Substance: OMALIZUMAB
     Route: 065
  365. OMALIZUMAB [Suspect]
     Active Substance: OMALIZUMAB
     Route: 065
  366. OMALIZUMAB [Suspect]
     Active Substance: OMALIZUMAB
     Route: 065
  367. RITUXIMAB [Suspect]
     Active Substance: RITUXIMAB
     Indication: Product used for unknown indication
     Route: 065
  368. RITUXIMAB [Suspect]
     Active Substance: RITUXIMAB
     Route: 065
  369. RITUXIMAB [Suspect]
     Active Substance: RITUXIMAB
     Route: 065
  370. RITUXIMAB [Suspect]
     Active Substance: RITUXIMAB
     Route: 065
  371. RITUXIMAB [Suspect]
     Active Substance: RITUXIMAB
     Route: 065
  372. RITUXIMAB [Suspect]
     Active Substance: RITUXIMAB
     Route: 065
  373. RITUXIMAB [Suspect]
     Active Substance: RITUXIMAB
     Route: 065
  374. RITUXIMAB [Suspect]
     Active Substance: RITUXIMAB
     Route: 065
  375. RITUXIMAB [Suspect]
     Active Substance: RITUXIMAB
     Route: 065
  376. RITUXIMAB [Suspect]
     Active Substance: RITUXIMAB
     Route: 065
  377. RITUXIMAB [Suspect]
     Active Substance: RITUXIMAB
     Route: 065
  378. RITUXIMAB [Suspect]
     Active Substance: RITUXIMAB
     Route: 065
  379. RITUXIMAB [Suspect]
     Active Substance: RITUXIMAB
     Route: 065
  380. RITUXIMAB [Suspect]
     Active Substance: RITUXIMAB
     Route: 065
  381. RITUXIMAB [Suspect]
     Active Substance: RITUXIMAB
     Route: 065
  382. RITUXIMAB [Suspect]
     Active Substance: RITUXIMAB
     Route: 065
  383. RITUXIMAB [Suspect]
     Active Substance: RITUXIMAB
     Route: 065
  384. RITUXIMAB [Suspect]
     Active Substance: RITUXIMAB
     Route: 065
  385. RITUXIMAB [Suspect]
     Active Substance: RITUXIMAB
     Route: 065
  386. RITUXIMAB [Suspect]
     Active Substance: RITUXIMAB
     Route: 065
  387. RITUXIMAB [Suspect]
     Active Substance: RITUXIMAB
     Route: 065
  388. RITUXIMAB [Suspect]
     Active Substance: RITUXIMAB
     Route: 065
  389. RITUXIMAB [Suspect]
     Active Substance: RITUXIMAB
     Route: 065
  390. RITUXIMAB [Suspect]
     Active Substance: RITUXIMAB
     Route: 065
  391. RITUXIMAB [Suspect]
     Active Substance: RITUXIMAB
     Route: 065
  392. RITUXIMAB [Suspect]
     Active Substance: RITUXIMAB
     Route: 065
  393. RITUXIMAB [Suspect]
     Active Substance: RITUXIMAB
     Route: 065
  394. RITUXIMAB [Suspect]
     Active Substance: RITUXIMAB
     Route: 065
  395. RITUXIMAB [Suspect]
     Active Substance: RITUXIMAB
     Route: 065
  396. RITUXIMAB [Suspect]
     Active Substance: RITUXIMAB
     Route: 065
  397. RITUXIMAB [Suspect]
     Active Substance: RITUXIMAB
     Route: 065
  398. RITUXIMAB [Suspect]
     Active Substance: RITUXIMAB
     Route: 065
  399. RITUXIMAB [Suspect]
     Active Substance: RITUXIMAB
     Route: 065
  400. RITUXIMAB [Suspect]
     Active Substance: RITUXIMAB
     Route: 065
  401. RITUXIMAB [Suspect]
     Active Substance: RITUXIMAB
     Route: 065
  402. RITUXIMAB [Suspect]
     Active Substance: RITUXIMAB
     Route: 065
  403. RITUXIMAB [Suspect]
     Active Substance: RITUXIMAB
     Route: 065
  404. RITUXIMAB [Suspect]
     Active Substance: RITUXIMAB
     Route: 065
  405. RITUXIMAB [Suspect]
     Active Substance: RITUXIMAB
     Route: 065
  406. RITUXIMAB [Suspect]
     Active Substance: RITUXIMAB
     Route: 065
  407. RITUXIMAB [Suspect]
     Active Substance: RITUXIMAB
     Route: 065
  408. RITUXIMAB [Suspect]
     Active Substance: RITUXIMAB
     Route: 065
  409. RITUXIMAB [Suspect]
     Active Substance: RITUXIMAB
     Route: 065
  410. RITUXIMAB [Suspect]
     Active Substance: RITUXIMAB
     Route: 065
  411. RITUXIMAB [Suspect]
     Active Substance: RITUXIMAB
     Route: 065
  412. RITUXIMAB [Suspect]
     Active Substance: RITUXIMAB
     Route: 065
  413. RITUXIMAB [Suspect]
     Active Substance: RITUXIMAB
     Route: 065
  414. RITUXIMAB [Suspect]
     Active Substance: RITUXIMAB
     Route: 065
  415. RITUXIMAB [Suspect]
     Active Substance: RITUXIMAB
     Route: 065
  416. RITUXIMAB [Suspect]
     Active Substance: RITUXIMAB
     Route: 065
  417. IMURAN [Suspect]
     Active Substance: AZATHIOPRINE
     Indication: Product used for unknown indication
     Route: 065
  418. IMURAN [Suspect]
     Active Substance: AZATHIOPRINE
     Indication: Chronic spontaneous urticaria
     Route: 065
  419. IMURAN [Suspect]
     Active Substance: AZATHIOPRINE
     Route: 065
  420. IMURAN [Suspect]
     Active Substance: AZATHIOPRINE
     Route: 065
  421. IMURAN [Suspect]
     Active Substance: AZATHIOPRINE
     Route: 065
  422. IMURAN [Suspect]
     Active Substance: AZATHIOPRINE
     Route: 065
  423. IMURAN [Suspect]
     Active Substance: AZATHIOPRINE
     Route: 065
  424. IMURAN [Suspect]
     Active Substance: AZATHIOPRINE
     Route: 065
  425. IMURAN [Suspect]
     Active Substance: AZATHIOPRINE
     Route: 065
  426. IMURAN [Suspect]
     Active Substance: AZATHIOPRINE
     Route: 065
  427. IMURAN [Suspect]
     Active Substance: AZATHIOPRINE
     Route: 065
  428. IMURAN [Suspect]
     Active Substance: AZATHIOPRINE
     Route: 065
  429. IMURAN [Suspect]
     Active Substance: AZATHIOPRINE
     Route: 065
  430. IMURAN [Suspect]
     Active Substance: AZATHIOPRINE
     Route: 065
  431. IMURAN [Suspect]
     Active Substance: AZATHIOPRINE
     Route: 065
  432. IMURAN [Suspect]
     Active Substance: AZATHIOPRINE
     Route: 065
  433. IMURAN [Suspect]
     Active Substance: AZATHIOPRINE
     Route: 065
  434. IMURAN [Suspect]
     Active Substance: AZATHIOPRINE
     Route: 065
  435. IMURAN [Suspect]
     Active Substance: AZATHIOPRINE
     Route: 065
  436. IMURAN [Suspect]
     Active Substance: AZATHIOPRINE
     Route: 065
  437. IMURAN [Suspect]
     Active Substance: AZATHIOPRINE
     Route: 065
  438. IMURAN [Suspect]
     Active Substance: AZATHIOPRINE
     Route: 065
  439. IMURAN [Suspect]
     Active Substance: AZATHIOPRINE
     Route: 065
  440. IMURAN [Suspect]
     Active Substance: AZATHIOPRINE
     Route: 065
  441. IMURAN [Suspect]
     Active Substance: AZATHIOPRINE
     Route: 065
  442. IMURAN [Suspect]
     Active Substance: AZATHIOPRINE
     Route: 065
  443. IMURAN [Suspect]
     Active Substance: AZATHIOPRINE
     Route: 065
  444. IMURAN [Suspect]
     Active Substance: AZATHIOPRINE
     Route: 065
  445. IMURAN [Suspect]
     Active Substance: AZATHIOPRINE
     Route: 065
  446. IMURAN [Suspect]
     Active Substance: AZATHIOPRINE
     Route: 065
  447. IMURAN [Suspect]
     Active Substance: AZATHIOPRINE
     Route: 065
  448. IMURAN [Suspect]
     Active Substance: AZATHIOPRINE
     Route: 065
  449. IMURAN [Suspect]
     Active Substance: AZATHIOPRINE
     Route: 065
  450. IMURAN [Suspect]
     Active Substance: AZATHIOPRINE
     Route: 065
  451. IMURAN [Suspect]
     Active Substance: AZATHIOPRINE
     Route: 065
  452. IMURAN [Suspect]
     Active Substance: AZATHIOPRINE
     Route: 065
  453. IMURAN [Suspect]
     Active Substance: AZATHIOPRINE
     Route: 065
  454. IMURAN [Suspect]
     Active Substance: AZATHIOPRINE
     Route: 065
  455. IMURAN [Suspect]
     Active Substance: AZATHIOPRINE
     Route: 065
  456. IMURAN [Suspect]
     Active Substance: AZATHIOPRINE
     Route: 065
  457. IMURAN [Suspect]
     Active Substance: AZATHIOPRINE
     Route: 065
  458. IMURAN [Suspect]
     Active Substance: AZATHIOPRINE
     Route: 065
  459. IMURAN [Suspect]
     Active Substance: AZATHIOPRINE
     Route: 065
  460. IMURAN [Suspect]
     Active Substance: AZATHIOPRINE
     Route: 065
  461. IMURAN [Suspect]
     Active Substance: AZATHIOPRINE
     Route: 065
  462. IMURAN [Suspect]
     Active Substance: AZATHIOPRINE
     Route: 065
  463. IMURAN [Suspect]
     Active Substance: AZATHIOPRINE
     Route: 065
  464. IMURAN [Suspect]
     Active Substance: AZATHIOPRINE
     Route: 065
  465. IMURAN [Suspect]
     Active Substance: AZATHIOPRINE
     Route: 065
  466. IMURAN [Suspect]
     Active Substance: AZATHIOPRINE
     Route: 065
  467. SULFASALAZINE [Suspect]
     Active Substance: SULFASALAZINE
     Indication: Product used for unknown indication
     Route: 065
  468. SULFASALAZINE [Suspect]
     Active Substance: SULFASALAZINE
     Indication: Chronic spontaneous urticaria
     Route: 065
  469. SULFASALAZINE [Suspect]
     Active Substance: SULFASALAZINE
     Indication: Autoimmune hypothyroidism
     Route: 065
  470. SULFASALAZINE [Suspect]
     Active Substance: SULFASALAZINE
     Route: 065
  471. SULFASALAZINE [Suspect]
     Active Substance: SULFASALAZINE
     Route: 065
  472. SULFASALAZINE [Suspect]
     Active Substance: SULFASALAZINE
     Route: 065
  473. SULFASALAZINE [Suspect]
     Active Substance: SULFASALAZINE
     Route: 065
  474. SULFASALAZINE [Suspect]
     Active Substance: SULFASALAZINE
     Route: 065
  475. SULFASALAZINE [Suspect]
     Active Substance: SULFASALAZINE
     Route: 065
  476. SULFASALAZINE [Suspect]
     Active Substance: SULFASALAZINE
     Route: 065
  477. SULFASALAZINE [Suspect]
     Active Substance: SULFASALAZINE
     Route: 065
  478. SULFASALAZINE [Suspect]
     Active Substance: SULFASALAZINE
     Route: 065
  479. SULFASALAZINE [Suspect]
     Active Substance: SULFASALAZINE
  480. SULFASALAZINE [Suspect]
     Active Substance: SULFASALAZINE
  481. SULFASALAZINE [Suspect]
     Active Substance: SULFASALAZINE
  482. SULFASALAZINE [Suspect]
     Active Substance: SULFASALAZINE
  483. ENOXAPARIN [Concomitant]
     Active Substance: ENOXAPARIN
     Indication: Autoimmune hypothyroidism
     Route: 065
  484. ENOXAPARIN [Concomitant]
     Active Substance: ENOXAPARIN
     Indication: Antiphospholipid syndrome
     Route: 065
  485. ENOXAPARIN [Concomitant]
     Active Substance: ENOXAPARIN
     Indication: Antiphospholipid syndrome
     Route: 065
  486. ENOXAPARIN [Concomitant]
     Active Substance: ENOXAPARIN
     Route: 065
  487. ENOXAPARIN [Concomitant]
     Active Substance: ENOXAPARIN
     Route: 065
  488. ENOXAPARIN [Concomitant]
     Active Substance: ENOXAPARIN
     Route: 065
  489. ENOXAPARIN [Concomitant]
     Active Substance: ENOXAPARIN
     Route: 065
  490. ENOXAPARIN [Concomitant]
     Active Substance: ENOXAPARIN
     Route: 065
  491. ENOXAPARIN [Concomitant]
     Active Substance: ENOXAPARIN
     Route: 065
  492. ENOXAPARIN [Concomitant]
     Active Substance: ENOXAPARIN
     Route: 065
  493. ENOXAPARIN [Concomitant]
     Active Substance: ENOXAPARIN
     Route: 065
  494. ENOXAPARIN [Concomitant]
     Active Substance: ENOXAPARIN
     Route: 065
  495. ENOXAPARIN [Concomitant]
     Active Substance: ENOXAPARIN
     Route: 065
  496. ENOXAPARIN [Concomitant]
     Active Substance: ENOXAPARIN
     Route: 065
  497. ENOXAPARIN [Concomitant]
     Active Substance: ENOXAPARIN
     Route: 065
  498. ENOXAPARIN [Concomitant]
     Active Substance: ENOXAPARIN
     Route: 065
  499. ENOXAPARIN [Concomitant]
     Active Substance: ENOXAPARIN
     Route: 065
  500. ENOXAPARIN [Concomitant]
     Active Substance: ENOXAPARIN
     Route: 065
  501. ENOXAPARIN [Concomitant]
     Active Substance: ENOXAPARIN
     Route: 065
  502. ENOXAPARIN [Concomitant]
     Active Substance: ENOXAPARIN
     Route: 065
  503. ENOXAPARIN [Concomitant]
     Active Substance: ENOXAPARIN
     Route: 065
  504. ENOXAPARIN [Concomitant]
     Active Substance: ENOXAPARIN
     Route: 065
  505. ENOXAPARIN [Concomitant]
     Active Substance: ENOXAPARIN
     Route: 065
  506. ENOXAPARIN [Concomitant]
     Active Substance: ENOXAPARIN
     Route: 065
  507. ENOXAPARIN [Concomitant]
     Active Substance: ENOXAPARIN
     Route: 065
  508. ENOXAPARIN [Concomitant]
     Active Substance: ENOXAPARIN
     Route: 065
  509. ENOXAPARIN [Concomitant]
     Active Substance: ENOXAPARIN
     Route: 065
  510. ENOXAPARIN [Concomitant]
     Active Substance: ENOXAPARIN
     Route: 065
  511. ENOXAPARIN [Concomitant]
     Active Substance: ENOXAPARIN
     Route: 065
  512. ENOXAPARIN [Concomitant]
     Active Substance: ENOXAPARIN
     Route: 065
  513. ENOXAPARIN [Concomitant]
     Active Substance: ENOXAPARIN
     Route: 065
  514. ENOXAPARIN [Concomitant]
     Active Substance: ENOXAPARIN
     Route: 065
  515. ENOXAPARIN [Concomitant]
     Active Substance: ENOXAPARIN
     Route: 065
  516. ENOXAPARIN [Concomitant]
     Active Substance: ENOXAPARIN
     Route: 065
  517. ENOXAPARIN [Concomitant]
     Active Substance: ENOXAPARIN
     Route: 065
  518. ENOXAPARIN [Concomitant]
     Active Substance: ENOXAPARIN
     Route: 065
  519. ENOXAPARIN [Concomitant]
     Active Substance: ENOXAPARIN
     Route: 065
  520. ENOXAPARIN [Concomitant]
     Active Substance: ENOXAPARIN
     Route: 065
  521. ENOXAPARIN [Concomitant]
     Active Substance: ENOXAPARIN
     Route: 065
  522. ENOXAPARIN [Concomitant]
     Active Substance: ENOXAPARIN
     Route: 065
  523. ENOXAPARIN [Concomitant]
     Active Substance: ENOXAPARIN
     Route: 065
  524. ENOXAPARIN [Concomitant]
     Active Substance: ENOXAPARIN
     Route: 065
  525. ENOXAPARIN [Concomitant]
     Active Substance: ENOXAPARIN
     Route: 065
  526. ENOXAPARIN [Concomitant]
     Active Substance: ENOXAPARIN
     Route: 065
  527. ENOXAPARIN [Concomitant]
     Active Substance: ENOXAPARIN
     Route: 065
  528. ENOXAPARIN [Concomitant]
     Active Substance: ENOXAPARIN
     Route: 065
  529. ENOXAPARIN [Concomitant]
     Active Substance: ENOXAPARIN
     Route: 065
  530. ENOXAPARIN [Concomitant]
     Active Substance: ENOXAPARIN
     Route: 065
  531. ENOXAPARIN [Concomitant]
     Active Substance: ENOXAPARIN
     Route: 065
  532. ENOXAPARIN [Concomitant]
     Active Substance: ENOXAPARIN
     Route: 065
  533. ENOXAPARIN [Concomitant]
     Active Substance: ENOXAPARIN
  534. ENOXAPARIN [Concomitant]
     Active Substance: ENOXAPARIN
  535. ENOXAPARIN [Concomitant]
     Active Substance: ENOXAPARIN
  536. ENOXAPARIN [Concomitant]
     Active Substance: ENOXAPARIN
  537. ENOXAPARIN [Concomitant]
     Active Substance: ENOXAPARIN
  538. ENOXAPARIN [Concomitant]
     Active Substance: ENOXAPARIN
  539. ENOXAPARIN [Concomitant]
     Active Substance: ENOXAPARIN
  540. ENOXAPARIN [Concomitant]
     Active Substance: ENOXAPARIN
  541. ENOXAPARIN [Concomitant]
     Active Substance: ENOXAPARIN
  542. ENOXAPARIN [Concomitant]
     Active Substance: ENOXAPARIN
  543. ENOXAPARIN [Concomitant]
     Active Substance: ENOXAPARIN
  544. ENOXAPARIN [Concomitant]
     Active Substance: ENOXAPARIN
  545. ENOXAPARIN [Concomitant]
     Active Substance: ENOXAPARIN
  546. ENOXAPARIN [Concomitant]
     Active Substance: ENOXAPARIN
  547. ENOXAPARIN [Concomitant]
     Active Substance: ENOXAPARIN
  548. ENOXAPARIN [Concomitant]
     Active Substance: ENOXAPARIN
  549. ENOXAPARIN [Concomitant]
     Active Substance: ENOXAPARIN
  550. ENOXAPARIN [Concomitant]
     Active Substance: ENOXAPARIN
  551. ENOXAPARIN [Concomitant]
     Active Substance: ENOXAPARIN
  552. ENOXAPARIN [Concomitant]
     Active Substance: ENOXAPARIN
  553. ENOXAPARIN [Concomitant]
     Active Substance: ENOXAPARIN
  554. ENOXAPARIN [Concomitant]
     Active Substance: ENOXAPARIN
  555. ENOXAPARIN [Concomitant]
     Active Substance: ENOXAPARIN
  556. ENOXAPARIN [Concomitant]
     Active Substance: ENOXAPARIN
  557. ENOXAPARIN [Concomitant]
     Active Substance: ENOXAPARIN
  558. ENOXAPARIN [Concomitant]
     Active Substance: ENOXAPARIN
  559. ENOXAPARIN [Concomitant]
     Active Substance: ENOXAPARIN
  560. ENOXAPARIN [Concomitant]
     Active Substance: ENOXAPARIN
  561. ENOXAPARIN [Concomitant]
     Active Substance: ENOXAPARIN
  562. ENOXAPARIN [Concomitant]
     Active Substance: ENOXAPARIN
  563. ENOXAPARIN [Concomitant]
     Active Substance: ENOXAPARIN
  564. ENOXAPARIN [Concomitant]
     Active Substance: ENOXAPARIN
  565. ENOXAPARIN [Concomitant]
     Active Substance: ENOXAPARIN
  566. ENOXAPARIN [Concomitant]
     Active Substance: ENOXAPARIN
  567. ENOXAPARIN [Concomitant]
     Active Substance: ENOXAPARIN
  568. ENOXAPARIN [Concomitant]
     Active Substance: ENOXAPARIN
  569. ENOXAPARIN [Concomitant]
     Active Substance: ENOXAPARIN
  570. ENOXAPARIN [Concomitant]
     Active Substance: ENOXAPARIN
  571. ENOXAPARIN [Concomitant]
     Active Substance: ENOXAPARIN
  572. ENOXAPARIN [Concomitant]
     Active Substance: ENOXAPARIN
  573. ENOXAPARIN [Concomitant]
     Active Substance: ENOXAPARIN
  574. ENOXAPARIN [Concomitant]
     Active Substance: ENOXAPARIN
  575. ENOXAPARIN [Concomitant]
     Active Substance: ENOXAPARIN
  576. ENOXAPARIN [Concomitant]
     Active Substance: ENOXAPARIN
  577. ENOXAPARIN [Concomitant]
     Active Substance: ENOXAPARIN
  578. ENOXAPARIN [Concomitant]
     Active Substance: ENOXAPARIN
  579. ENOXAPARIN [Concomitant]
     Active Substance: ENOXAPARIN
  580. ENOXAPARIN [Concomitant]
     Active Substance: ENOXAPARIN
  581. ENOXAPARIN [Concomitant]
     Active Substance: ENOXAPARIN
  582. ENOXAPARIN [Concomitant]
     Active Substance: ENOXAPARIN
  583. ENOXAPARIN [Concomitant]
     Active Substance: ENOXAPARIN
  584. ENOXAPARIN [Concomitant]
     Active Substance: ENOXAPARIN
  585. ENOXAPARIN [Concomitant]
     Active Substance: ENOXAPARIN
  586. ENOXAPARIN [Concomitant]
     Active Substance: ENOXAPARIN
  587. ENOXAPARIN [Concomitant]
     Active Substance: ENOXAPARIN
  588. ENOXAPARIN [Concomitant]
     Active Substance: ENOXAPARIN
  589. ENOXAPARIN [Concomitant]
     Active Substance: ENOXAPARIN
  590. ENOXAPARIN [Concomitant]
     Active Substance: ENOXAPARIN
  591. ENOXAPARIN [Concomitant]
     Active Substance: ENOXAPARIN
  592. ENOXAPARIN [Concomitant]
     Active Substance: ENOXAPARIN
  593. ENOXAPARIN [Concomitant]
     Active Substance: ENOXAPARIN
  594. ENOXAPARIN [Concomitant]
     Active Substance: ENOXAPARIN
  595. ENOXAPARIN [Concomitant]
     Active Substance: ENOXAPARIN
  596. ENOXAPARIN [Concomitant]
     Active Substance: ENOXAPARIN
  597. ENOXAPARIN [Concomitant]
     Active Substance: ENOXAPARIN
  598. ENOXAPARIN [Concomitant]
     Active Substance: ENOXAPARIN
  599. ENOXAPARIN [Concomitant]
     Active Substance: ENOXAPARIN
  600. ENOXAPARIN [Concomitant]
     Active Substance: ENOXAPARIN
  601. ENOXAPARIN [Concomitant]
     Active Substance: ENOXAPARIN
  602. ENOXAPARIN [Concomitant]
     Active Substance: ENOXAPARIN
  603. ENOXAPARIN [Concomitant]
     Active Substance: ENOXAPARIN
  604. ENOXAPARIN [Concomitant]
     Active Substance: ENOXAPARIN
  605. ENOXAPARIN [Concomitant]
     Active Substance: ENOXAPARIN
  606. ENOXAPARIN [Concomitant]
     Active Substance: ENOXAPARIN
  607. ENOXAPARIN [Concomitant]
     Active Substance: ENOXAPARIN
  608. ENOXAPARIN [Concomitant]
     Active Substance: ENOXAPARIN
  609. ENOXAPARIN [Concomitant]
     Active Substance: ENOXAPARIN
  610. ENOXAPARIN [Concomitant]
     Active Substance: ENOXAPARIN
  611. ENOXAPARIN [Concomitant]
     Active Substance: ENOXAPARIN
  612. ENOXAPARIN [Concomitant]
     Active Substance: ENOXAPARIN
  613. ENOXAPARIN [Concomitant]
     Active Substance: ENOXAPARIN
  614. ENOXAPARIN [Concomitant]
     Active Substance: ENOXAPARIN
  615. ENOXAPARIN [Concomitant]
     Active Substance: ENOXAPARIN
  616. ENOXAPARIN [Concomitant]
     Active Substance: ENOXAPARIN
  617. ENOXAPARIN [Concomitant]
     Active Substance: ENOXAPARIN
  618. ENOXAPARIN [Concomitant]
     Active Substance: ENOXAPARIN
  619. ENOXAPARIN [Concomitant]
     Active Substance: ENOXAPARIN
  620. ENOXAPARIN [Concomitant]
     Active Substance: ENOXAPARIN
  621. ENOXAPARIN [Concomitant]
     Active Substance: ENOXAPARIN
  622. ENOXAPARIN [Concomitant]
     Active Substance: ENOXAPARIN
  623. ENOXAPARIN [Concomitant]
     Active Substance: ENOXAPARIN
  624. ENOXAPARIN [Concomitant]
     Active Substance: ENOXAPARIN
  625. ENOXAPARIN [Concomitant]
     Active Substance: ENOXAPARIN
  626. ENOXAPARIN [Concomitant]
     Active Substance: ENOXAPARIN
  627. ENOXAPARIN [Concomitant]
     Active Substance: ENOXAPARIN
  628. ENOXAPARIN [Concomitant]
     Active Substance: ENOXAPARIN
  629. ENOXAPARIN [Concomitant]
     Active Substance: ENOXAPARIN
  630. ENOXAPARIN [Concomitant]
     Active Substance: ENOXAPARIN
  631. ENOXAPARIN [Concomitant]
     Active Substance: ENOXAPARIN
  632. ENOXAPARIN [Concomitant]
     Active Substance: ENOXAPARIN
  633. ENOXAPARIN [Concomitant]
     Active Substance: ENOXAPARIN
  634. ENOXAPARIN [Concomitant]
     Active Substance: ENOXAPARIN
  635. ENOXAPARIN [Concomitant]
     Active Substance: ENOXAPARIN
  636. ENOXAPARIN [Concomitant]
     Active Substance: ENOXAPARIN
  637. ENOXAPARIN [Concomitant]
     Active Substance: ENOXAPARIN
  638. ENOXAPARIN [Concomitant]
     Active Substance: ENOXAPARIN
  639. ENOXAPARIN [Concomitant]
     Active Substance: ENOXAPARIN
  640. ENOXAPARIN [Concomitant]
     Active Substance: ENOXAPARIN
  641. ENOXAPARIN [Concomitant]
     Active Substance: ENOXAPARIN
  642. ENOXAPARIN [Concomitant]
     Active Substance: ENOXAPARIN
  643. ENOXAPARIN [Concomitant]
     Active Substance: ENOXAPARIN
  644. ENOXAPARIN [Concomitant]
     Active Substance: ENOXAPARIN
  645. ENOXAPARIN [Concomitant]
     Active Substance: ENOXAPARIN
  646. ENOXAPARIN [Concomitant]
     Active Substance: ENOXAPARIN
  647. ENOXAPARIN [Concomitant]
     Active Substance: ENOXAPARIN
  648. ENOXAPARIN [Concomitant]
     Active Substance: ENOXAPARIN
  649. ENOXAPARIN [Concomitant]
     Active Substance: ENOXAPARIN
  650. ENOXAPARIN [Concomitant]
     Active Substance: ENOXAPARIN
  651. ENOXAPARIN [Concomitant]
     Active Substance: ENOXAPARIN
  652. ENOXAPARIN [Concomitant]
     Active Substance: ENOXAPARIN
  653. ENOXAPARIN [Concomitant]
     Active Substance: ENOXAPARIN
  654. ENOXAPARIN [Concomitant]
     Active Substance: ENOXAPARIN
  655. ENOXAPARIN [Concomitant]
     Active Substance: ENOXAPARIN
  656. ENOXAPARIN [Concomitant]
     Active Substance: ENOXAPARIN
  657. ENOXAPARIN [Concomitant]
     Active Substance: ENOXAPARIN
  658. ENOXAPARIN [Concomitant]
     Active Substance: ENOXAPARIN
  659. ENOXAPARIN [Concomitant]
     Active Substance: ENOXAPARIN
  660. ENOXAPARIN [Concomitant]
     Active Substance: ENOXAPARIN
  661. ENOXAPARIN [Concomitant]
     Active Substance: ENOXAPARIN
  662. ENOXAPARIN [Concomitant]
     Active Substance: ENOXAPARIN
  663. ENOXAPARIN [Concomitant]
     Active Substance: ENOXAPARIN
  664. ENOXAPARIN [Concomitant]
     Active Substance: ENOXAPARIN
  665. ENOXAPARIN [Concomitant]
     Active Substance: ENOXAPARIN
  666. ENOXAPARIN [Concomitant]
     Active Substance: ENOXAPARIN
  667. ENOXAPARIN [Concomitant]
     Active Substance: ENOXAPARIN
  668. ENOXAPARIN [Concomitant]
     Active Substance: ENOXAPARIN
  669. ENOXAPARIN [Concomitant]
     Active Substance: ENOXAPARIN
  670. ENOXAPARIN [Concomitant]
     Active Substance: ENOXAPARIN
  671. ENOXAPARIN [Concomitant]
     Active Substance: ENOXAPARIN
  672. ENOXAPARIN [Concomitant]
     Active Substance: ENOXAPARIN
  673. ENOXAPARIN [Concomitant]
     Active Substance: ENOXAPARIN
  674. ENOXAPARIN [Concomitant]
     Active Substance: ENOXAPARIN
  675. ENOXAPARIN [Concomitant]
     Active Substance: ENOXAPARIN
  676. ENOXAPARIN [Concomitant]
     Active Substance: ENOXAPARIN
  677. ENOXAPARIN [Concomitant]
     Active Substance: ENOXAPARIN
  678. ENOXAPARIN [Concomitant]
     Active Substance: ENOXAPARIN
  679. ENOXAPARIN [Concomitant]
     Active Substance: ENOXAPARIN
  680. ENOXAPARIN [Concomitant]
     Active Substance: ENOXAPARIN
  681. ENOXAPARIN [Concomitant]
     Active Substance: ENOXAPARIN
  682. ENOXAPARIN [Concomitant]
     Active Substance: ENOXAPARIN
  683. ENOXAPARIN [Concomitant]
     Active Substance: ENOXAPARIN
  684. ENOXAPARIN [Concomitant]
     Active Substance: ENOXAPARIN
  685. ENOXAPARIN [Concomitant]
     Active Substance: ENOXAPARIN
  686. ENOXAPARIN [Concomitant]
     Active Substance: ENOXAPARIN
  687. ENOXAPARIN [Concomitant]
     Active Substance: ENOXAPARIN
  688. ENOXAPARIN [Concomitant]
     Active Substance: ENOXAPARIN
  689. ENOXAPARIN [Concomitant]
     Active Substance: ENOXAPARIN
  690. ENOXAPARIN [Concomitant]
     Active Substance: ENOXAPARIN
  691. ENOXAPARIN [Concomitant]
     Active Substance: ENOXAPARIN
  692. ENOXAPARIN [Concomitant]
     Active Substance: ENOXAPARIN
  693. ENOXAPARIN [Concomitant]
     Active Substance: ENOXAPARIN
  694. ENOXAPARIN [Concomitant]
     Active Substance: ENOXAPARIN
  695. ENOXAPARIN [Concomitant]
     Active Substance: ENOXAPARIN
  696. ENOXAPARIN [Concomitant]
     Active Substance: ENOXAPARIN
  697. ENOXAPARIN [Concomitant]
     Active Substance: ENOXAPARIN
  698. ENOXAPARIN [Concomitant]
     Active Substance: ENOXAPARIN
  699. ENOXAPARIN [Concomitant]
     Active Substance: ENOXAPARIN
  700. ENOXAPARIN [Concomitant]
     Active Substance: ENOXAPARIN
  701. ENOXAPARIN [Concomitant]
     Active Substance: ENOXAPARIN
  702. ENOXAPARIN [Concomitant]
     Active Substance: ENOXAPARIN
  703. ENOXAPARIN [Concomitant]
     Active Substance: ENOXAPARIN
  704. ENOXAPARIN [Concomitant]
     Active Substance: ENOXAPARIN
  705. ENOXAPARIN [Concomitant]
     Active Substance: ENOXAPARIN
  706. ENOXAPARIN [Concomitant]
     Active Substance: ENOXAPARIN
  707. ENOXAPARIN [Concomitant]
     Active Substance: ENOXAPARIN
  708. ENOXAPARIN [Concomitant]
     Active Substance: ENOXAPARIN
  709. ENOXAPARIN [Concomitant]
     Active Substance: ENOXAPARIN
  710. ENOXAPARIN [Concomitant]
     Active Substance: ENOXAPARIN
  711. ENOXAPARIN [Concomitant]
     Active Substance: ENOXAPARIN
  712. ENOXAPARIN [Concomitant]
     Active Substance: ENOXAPARIN
  713. ENOXAPARIN [Concomitant]
     Active Substance: ENOXAPARIN
  714. ENOXAPARIN [Concomitant]
     Active Substance: ENOXAPARIN
  715. ENOXAPARIN [Concomitant]
     Active Substance: ENOXAPARIN
  716. ENOXAPARIN [Concomitant]
     Active Substance: ENOXAPARIN
  717. ENOXAPARIN [Concomitant]
     Active Substance: ENOXAPARIN
  718. ENOXAPARIN [Concomitant]
     Active Substance: ENOXAPARIN
  719. ENOXAPARIN [Concomitant]
     Active Substance: ENOXAPARIN
  720. ENOXAPARIN [Concomitant]
     Active Substance: ENOXAPARIN
  721. ENOXAPARIN [Concomitant]
     Active Substance: ENOXAPARIN
  722. ENOXAPARIN [Concomitant]
     Active Substance: ENOXAPARIN
  723. ENOXAPARIN [Concomitant]
     Active Substance: ENOXAPARIN
  724. ENOXAPARIN [Concomitant]
     Active Substance: ENOXAPARIN
  725. ENOXAPARIN [Concomitant]
     Active Substance: ENOXAPARIN
  726. ENOXAPARIN [Concomitant]
     Active Substance: ENOXAPARIN
  727. ENOXAPARIN [Concomitant]
     Active Substance: ENOXAPARIN
  728. ENOXAPARIN [Concomitant]
     Active Substance: ENOXAPARIN
  729. ENOXAPARIN [Concomitant]
     Active Substance: ENOXAPARIN
  730. ENOXAPARIN [Concomitant]
     Active Substance: ENOXAPARIN
  731. ENOXAPARIN [Concomitant]
     Active Substance: ENOXAPARIN
  732. ENOXAPARIN [Concomitant]
     Active Substance: ENOXAPARIN
  733. ENOXAPARIN [Concomitant]
     Active Substance: ENOXAPARIN
  734. ENOXAPARIN [Concomitant]
     Active Substance: ENOXAPARIN
  735. ENOXAPARIN [Concomitant]
     Active Substance: ENOXAPARIN
  736. ENOXAPARIN [Concomitant]
     Active Substance: ENOXAPARIN
  737. ENOXAPARIN [Concomitant]
     Active Substance: ENOXAPARIN
  738. ENOXAPARIN [Concomitant]
     Active Substance: ENOXAPARIN
  739. ENOXAPARIN [Concomitant]
     Active Substance: ENOXAPARIN
  740. ENOXAPARIN [Concomitant]
     Active Substance: ENOXAPARIN
  741. ENOXAPARIN [Concomitant]
     Active Substance: ENOXAPARIN
  742. ENOXAPARIN [Concomitant]
     Active Substance: ENOXAPARIN
  743. ENOXAPARIN [Concomitant]
     Active Substance: ENOXAPARIN
  744. ENOXAPARIN [Concomitant]
     Active Substance: ENOXAPARIN
  745. ENOXAPARIN [Concomitant]
     Active Substance: ENOXAPARIN
  746. ENOXAPARIN [Concomitant]
     Active Substance: ENOXAPARIN
  747. ENOXAPARIN [Concomitant]
     Active Substance: ENOXAPARIN
  748. ENOXAPARIN [Concomitant]
     Active Substance: ENOXAPARIN
  749. ENOXAPARIN [Concomitant]
     Active Substance: ENOXAPARIN
  750. ENOXAPARIN [Concomitant]
     Active Substance: ENOXAPARIN
  751. ENOXAPARIN [Concomitant]
     Active Substance: ENOXAPARIN
  752. ENOXAPARIN [Concomitant]
     Active Substance: ENOXAPARIN
  753. ENOXAPARIN [Concomitant]
     Active Substance: ENOXAPARIN
  754. ENOXAPARIN [Concomitant]
     Active Substance: ENOXAPARIN
  755. ENOXAPARIN [Concomitant]
     Active Substance: ENOXAPARIN
  756. ENOXAPARIN [Concomitant]
     Active Substance: ENOXAPARIN
  757. ENOXAPARIN [Concomitant]
     Active Substance: ENOXAPARIN
  758. ENOXAPARIN [Concomitant]
     Active Substance: ENOXAPARIN
  759. ENOXAPARIN [Concomitant]
     Active Substance: ENOXAPARIN
  760. ENOXAPARIN [Concomitant]
     Active Substance: ENOXAPARIN
  761. ENOXAPARIN [Concomitant]
     Active Substance: ENOXAPARIN
  762. ENOXAPARIN [Concomitant]
     Active Substance: ENOXAPARIN
  763. ENOXAPARIN [Concomitant]
     Active Substance: ENOXAPARIN
  764. ENOXAPARIN [Concomitant]
     Active Substance: ENOXAPARIN
  765. ENOXAPARIN [Concomitant]
     Active Substance: ENOXAPARIN
  766. ENOXAPARIN [Concomitant]
     Active Substance: ENOXAPARIN
  767. ENOXAPARIN [Concomitant]
     Active Substance: ENOXAPARIN
  768. ENOXAPARIN [Concomitant]
     Active Substance: ENOXAPARIN
  769. ENOXAPARIN [Concomitant]
     Active Substance: ENOXAPARIN
  770. ENOXAPARIN [Concomitant]
     Active Substance: ENOXAPARIN
  771. ENOXAPARIN [Concomitant]
     Active Substance: ENOXAPARIN
  772. ENOXAPARIN [Concomitant]
     Active Substance: ENOXAPARIN
  773. ENOXAPARIN [Concomitant]
     Active Substance: ENOXAPARIN
  774. ENOXAPARIN [Concomitant]
     Active Substance: ENOXAPARIN
  775. ENOXAPARIN [Concomitant]
     Active Substance: ENOXAPARIN
  776. ENOXAPARIN [Concomitant]
     Active Substance: ENOXAPARIN
  777. ENOXAPARIN [Concomitant]
     Active Substance: ENOXAPARIN
  778. ENOXAPARIN [Concomitant]
     Active Substance: ENOXAPARIN
  779. ENOXAPARIN [Concomitant]
     Active Substance: ENOXAPARIN
  780. ENOXAPARIN [Concomitant]
     Active Substance: ENOXAPARIN
  781. ENOXAPARIN [Concomitant]
     Active Substance: ENOXAPARIN
  782. ENOXAPARIN [Concomitant]
     Active Substance: ENOXAPARIN
  783. ENOXAPARIN [Concomitant]
     Active Substance: ENOXAPARIN
  784. ENOXAPARIN [Concomitant]
     Active Substance: ENOXAPARIN
  785. ENOXAPARIN [Concomitant]
     Active Substance: ENOXAPARIN
  786. ENOXAPARIN [Concomitant]
     Active Substance: ENOXAPARIN
  787. ENOXAPARIN [Concomitant]
     Active Substance: ENOXAPARIN
  788. ENOXAPARIN [Concomitant]
     Active Substance: ENOXAPARIN
  789. ENOXAPARIN [Concomitant]
     Active Substance: ENOXAPARIN
  790. ENOXAPARIN [Concomitant]
     Active Substance: ENOXAPARIN
  791. ENOXAPARIN [Concomitant]
     Active Substance: ENOXAPARIN
  792. ENOXAPARIN [Concomitant]
     Active Substance: ENOXAPARIN
  793. ENOXAPARIN [Concomitant]
     Active Substance: ENOXAPARIN
  794. ENOXAPARIN [Concomitant]
     Active Substance: ENOXAPARIN
  795. ENOXAPARIN [Concomitant]
     Active Substance: ENOXAPARIN
  796. ENOXAPARIN [Concomitant]
     Active Substance: ENOXAPARIN
  797. ENOXAPARIN [Concomitant]
     Active Substance: ENOXAPARIN
  798. ENOXAPARIN [Concomitant]
     Active Substance: ENOXAPARIN
  799. ENOXAPARIN [Concomitant]
     Active Substance: ENOXAPARIN
  800. ENOXAPARIN [Concomitant]
     Active Substance: ENOXAPARIN
  801. ENOXAPARIN [Concomitant]
     Active Substance: ENOXAPARIN
  802. ENOXAPARIN [Concomitant]
     Active Substance: ENOXAPARIN
  803. ENOXAPARIN [Concomitant]
     Active Substance: ENOXAPARIN
  804. ENOXAPARIN [Concomitant]
     Active Substance: ENOXAPARIN
  805. ENOXAPARIN [Concomitant]
     Active Substance: ENOXAPARIN
  806. ENOXAPARIN [Concomitant]
     Active Substance: ENOXAPARIN
  807. ENOXAPARIN [Concomitant]
     Active Substance: ENOXAPARIN
  808. ENOXAPARIN [Concomitant]
     Active Substance: ENOXAPARIN
  809. ENOXAPARIN [Concomitant]
     Active Substance: ENOXAPARIN
  810. ENOXAPARIN [Concomitant]
     Active Substance: ENOXAPARIN
  811. ENOXAPARIN [Concomitant]
     Active Substance: ENOXAPARIN
  812. ENOXAPARIN [Concomitant]
     Active Substance: ENOXAPARIN
  813. ENOXAPARIN [Concomitant]
     Active Substance: ENOXAPARIN
  814. ENOXAPARIN [Concomitant]
     Active Substance: ENOXAPARIN
  815. ENOXAPARIN [Concomitant]
     Active Substance: ENOXAPARIN
  816. ENOXAPARIN [Concomitant]
     Active Substance: ENOXAPARIN
  817. ENOXAPARIN [Concomitant]
     Active Substance: ENOXAPARIN
  818. ENOXAPARIN [Concomitant]
     Active Substance: ENOXAPARIN
  819. ENOXAPARIN [Concomitant]
     Active Substance: ENOXAPARIN
  820. ENOXAPARIN [Concomitant]
     Active Substance: ENOXAPARIN
  821. ENOXAPARIN [Concomitant]
     Active Substance: ENOXAPARIN
  822. ENOXAPARIN [Concomitant]
     Active Substance: ENOXAPARIN
  823. ENOXAPARIN [Concomitant]
     Active Substance: ENOXAPARIN
  824. ENOXAPARIN [Concomitant]
     Active Substance: ENOXAPARIN
  825. ENOXAPARIN [Concomitant]
     Active Substance: ENOXAPARIN
  826. ENOXAPARIN [Concomitant]
     Active Substance: ENOXAPARIN
  827. ENOXAPARIN [Concomitant]
     Active Substance: ENOXAPARIN
  828. ENOXAPARIN [Concomitant]
     Active Substance: ENOXAPARIN
  829. ENOXAPARIN [Concomitant]
     Active Substance: ENOXAPARIN
  830. ENOXAPARIN [Concomitant]
     Active Substance: ENOXAPARIN
  831. ENOXAPARIN [Concomitant]
     Active Substance: ENOXAPARIN
  832. ENOXAPARIN [Concomitant]
     Active Substance: ENOXAPARIN
  833. ENOXAPARIN [Concomitant]
     Active Substance: ENOXAPARIN
  834. ENOXAPARIN [Concomitant]
     Active Substance: ENOXAPARIN
  835. ENOXAPARIN [Concomitant]
     Active Substance: ENOXAPARIN
  836. ENOXAPARIN [Concomitant]
     Active Substance: ENOXAPARIN
  837. ENOXAPARIN [Concomitant]
     Active Substance: ENOXAPARIN
  838. ENOXAPARIN [Concomitant]
     Active Substance: ENOXAPARIN
  839. ENOXAPARIN [Concomitant]
     Active Substance: ENOXAPARIN
  840. ENOXAPARIN [Concomitant]
     Active Substance: ENOXAPARIN
  841. ENOXAPARIN [Concomitant]
     Active Substance: ENOXAPARIN
  842. ENOXAPARIN [Concomitant]
     Active Substance: ENOXAPARIN
  843. ENOXAPARIN [Concomitant]
     Active Substance: ENOXAPARIN
  844. ENOXAPARIN [Concomitant]
     Active Substance: ENOXAPARIN
  845. ENOXAPARIN [Concomitant]
     Active Substance: ENOXAPARIN
  846. ENOXAPARIN [Concomitant]
     Active Substance: ENOXAPARIN
  847. ENOXAPARIN [Concomitant]
     Active Substance: ENOXAPARIN
  848. ENOXAPARIN [Concomitant]
     Active Substance: ENOXAPARIN
  849. ENOXAPARIN [Concomitant]
     Active Substance: ENOXAPARIN
  850. ENOXAPARIN [Concomitant]
     Active Substance: ENOXAPARIN
  851. ENOXAPARIN [Concomitant]
     Active Substance: ENOXAPARIN
  852. ENOXAPARIN [Concomitant]
     Active Substance: ENOXAPARIN
  853. ENOXAPARIN [Concomitant]
     Active Substance: ENOXAPARIN
  854. ENOXAPARIN [Concomitant]
     Active Substance: ENOXAPARIN
  855. ENOXAPARIN [Concomitant]
     Active Substance: ENOXAPARIN
  856. ENOXAPARIN [Concomitant]
     Active Substance: ENOXAPARIN
  857. ENOXAPARIN [Concomitant]
     Active Substance: ENOXAPARIN
  858. ENOXAPARIN [Concomitant]
     Active Substance: ENOXAPARIN
  859. ENOXAPARIN [Concomitant]
     Active Substance: ENOXAPARIN
  860. ENOXAPARIN [Concomitant]
     Active Substance: ENOXAPARIN
  861. ENOXAPARIN [Concomitant]
     Active Substance: ENOXAPARIN
  862. ENOXAPARIN [Concomitant]
     Active Substance: ENOXAPARIN
  863. ENOXAPARIN [Concomitant]
     Active Substance: ENOXAPARIN
  864. ENOXAPARIN [Concomitant]
     Active Substance: ENOXAPARIN
  865. ENOXAPARIN [Concomitant]
     Active Substance: ENOXAPARIN
  866. ENOXAPARIN [Concomitant]
     Active Substance: ENOXAPARIN
  867. ENOXAPARIN [Concomitant]
     Active Substance: ENOXAPARIN
  868. ENOXAPARIN [Concomitant]
     Active Substance: ENOXAPARIN
  869. ENOXAPARIN [Concomitant]
     Active Substance: ENOXAPARIN
  870. ENOXAPARIN [Concomitant]
     Active Substance: ENOXAPARIN
  871. ENOXAPARIN [Concomitant]
     Active Substance: ENOXAPARIN
  872. ENOXAPARIN [Concomitant]
     Active Substance: ENOXAPARIN
  873. ENOXAPARIN [Concomitant]
     Active Substance: ENOXAPARIN
  874. ENOXAPARIN [Concomitant]
     Active Substance: ENOXAPARIN
  875. ENOXAPARIN [Concomitant]
     Active Substance: ENOXAPARIN
  876. ENOXAPARIN [Concomitant]
     Active Substance: ENOXAPARIN
  877. ENOXAPARIN [Concomitant]
     Active Substance: ENOXAPARIN
  878. ENOXAPARIN [Concomitant]
     Active Substance: ENOXAPARIN
  879. ENOXAPARIN [Concomitant]
     Active Substance: ENOXAPARIN
  880. ENOXAPARIN [Concomitant]
     Active Substance: ENOXAPARIN
  881. ENOXAPARIN [Concomitant]
     Active Substance: ENOXAPARIN
  882. ENOXAPARIN [Concomitant]
     Active Substance: ENOXAPARIN
  883. ENOXAPARIN [Concomitant]
     Active Substance: ENOXAPARIN
  884. ENOXAPARIN [Concomitant]
     Active Substance: ENOXAPARIN
  885. ENOXAPARIN [Concomitant]
     Active Substance: ENOXAPARIN
  886. ENOXAPARIN [Concomitant]
     Active Substance: ENOXAPARIN
  887. ENOXAPARIN [Concomitant]
     Active Substance: ENOXAPARIN
  888. ENOXAPARIN [Concomitant]
     Active Substance: ENOXAPARIN
  889. ENOXAPARIN [Concomitant]
     Active Substance: ENOXAPARIN
  890. ENOXAPARIN [Concomitant]
     Active Substance: ENOXAPARIN
  891. ENOXAPARIN [Concomitant]
     Active Substance: ENOXAPARIN
  892. ENOXAPARIN [Concomitant]
     Active Substance: ENOXAPARIN
  893. ENOXAPARIN [Concomitant]
     Active Substance: ENOXAPARIN
  894. ENOXAPARIN [Concomitant]
     Active Substance: ENOXAPARIN
  895. ENOXAPARIN [Concomitant]
     Active Substance: ENOXAPARIN
  896. ENOXAPARIN [Concomitant]
     Active Substance: ENOXAPARIN
  897. ENOXAPARIN [Concomitant]
     Active Substance: ENOXAPARIN
  898. ENOXAPARIN [Concomitant]
     Active Substance: ENOXAPARIN
  899. ENOXAPARIN [Concomitant]
     Active Substance: ENOXAPARIN
  900. ENOXAPARIN [Concomitant]
     Active Substance: ENOXAPARIN
  901. ENOXAPARIN [Concomitant]
     Active Substance: ENOXAPARIN
  902. ENOXAPARIN [Concomitant]
     Active Substance: ENOXAPARIN
  903. ENOXAPARIN [Concomitant]
     Active Substance: ENOXAPARIN
  904. ENOXAPARIN [Concomitant]
     Active Substance: ENOXAPARIN
  905. ENOXAPARIN [Concomitant]
     Active Substance: ENOXAPARIN
  906. ENOXAPARIN [Concomitant]
     Active Substance: ENOXAPARIN
  907. ENOXAPARIN [Concomitant]
     Active Substance: ENOXAPARIN
  908. ENOXAPARIN [Concomitant]
     Active Substance: ENOXAPARIN
  909. ENOXAPARIN [Concomitant]
     Active Substance: ENOXAPARIN
  910. ENOXAPARIN [Concomitant]
     Active Substance: ENOXAPARIN
  911. ENOXAPARIN [Concomitant]
     Active Substance: ENOXAPARIN
  912. ENOXAPARIN [Concomitant]
     Active Substance: ENOXAPARIN
  913. ENOXAPARIN [Concomitant]
     Active Substance: ENOXAPARIN
  914. ENOXAPARIN [Concomitant]
     Active Substance: ENOXAPARIN
  915. ENOXAPARIN [Concomitant]
     Active Substance: ENOXAPARIN
  916. ENOXAPARIN [Concomitant]
     Active Substance: ENOXAPARIN
  917. ENOXAPARIN [Concomitant]
     Active Substance: ENOXAPARIN
  918. ENOXAPARIN [Concomitant]
     Active Substance: ENOXAPARIN
  919. ENOXAPARIN [Concomitant]
     Active Substance: ENOXAPARIN
  920. ENOXAPARIN [Concomitant]
     Active Substance: ENOXAPARIN
  921. ENOXAPARIN [Concomitant]
     Active Substance: ENOXAPARIN
  922. ENOXAPARIN [Concomitant]
     Active Substance: ENOXAPARIN
  923. ENOXAPARIN [Concomitant]
     Active Substance: ENOXAPARIN
  924. ENOXAPARIN [Concomitant]
     Active Substance: ENOXAPARIN
  925. ENOXAPARIN [Concomitant]
     Active Substance: ENOXAPARIN
  926. ENOXAPARIN [Concomitant]
     Active Substance: ENOXAPARIN
  927. ENOXAPARIN [Concomitant]
     Active Substance: ENOXAPARIN
  928. ENOXAPARIN [Concomitant]
     Active Substance: ENOXAPARIN
  929. ENOXAPARIN [Concomitant]
     Active Substance: ENOXAPARIN
  930. ENOXAPARIN [Concomitant]
     Active Substance: ENOXAPARIN
  931. ENOXAPARIN [Concomitant]
     Active Substance: ENOXAPARIN
  932. ENOXAPARIN [Concomitant]
     Active Substance: ENOXAPARIN
  933. ENOXAPARIN [Concomitant]
     Active Substance: ENOXAPARIN
  934. ENOXAPARIN [Concomitant]
     Active Substance: ENOXAPARIN
  935. ENOXAPARIN [Concomitant]
     Active Substance: ENOXAPARIN
  936. ENOXAPARIN [Concomitant]
     Active Substance: ENOXAPARIN
  937. ENOXAPARIN [Concomitant]
     Active Substance: ENOXAPARIN
  938. ENOXAPARIN [Concomitant]
     Active Substance: ENOXAPARIN
  939. ENOXAPARIN [Concomitant]
     Active Substance: ENOXAPARIN
  940. ENOXAPARIN [Concomitant]
     Active Substance: ENOXAPARIN
  941. ENOXAPARIN [Concomitant]
     Active Substance: ENOXAPARIN
  942. ENOXAPARIN [Concomitant]
     Active Substance: ENOXAPARIN
  943. ENOXAPARIN [Concomitant]
     Active Substance: ENOXAPARIN
  944. ENOXAPARIN [Concomitant]
     Active Substance: ENOXAPARIN
  945. ENOXAPARIN [Concomitant]
     Active Substance: ENOXAPARIN
  946. ENOXAPARIN [Concomitant]
     Active Substance: ENOXAPARIN
  947. ENOXAPARIN [Concomitant]
     Active Substance: ENOXAPARIN
  948. ENOXAPARIN [Concomitant]
     Active Substance: ENOXAPARIN
  949. ENOXAPARIN [Concomitant]
     Active Substance: ENOXAPARIN
  950. ENOXAPARIN [Concomitant]
     Active Substance: ENOXAPARIN
  951. ENOXAPARIN [Concomitant]
     Active Substance: ENOXAPARIN
  952. ENOXAPARIN [Concomitant]
     Active Substance: ENOXAPARIN
  953. ENOXAPARIN [Concomitant]
     Active Substance: ENOXAPARIN
  954. ENOXAPARIN [Concomitant]
     Active Substance: ENOXAPARIN
  955. ENOXAPARIN [Concomitant]
     Active Substance: ENOXAPARIN
  956. ENOXAPARIN [Concomitant]
     Active Substance: ENOXAPARIN
  957. ENOXAPARIN [Concomitant]
     Active Substance: ENOXAPARIN
  958. ENOXAPARIN [Concomitant]
     Active Substance: ENOXAPARIN
  959. ENOXAPARIN [Concomitant]
     Active Substance: ENOXAPARIN
  960. ENOXAPARIN [Concomitant]
     Active Substance: ENOXAPARIN
  961. ENOXAPARIN [Concomitant]
     Active Substance: ENOXAPARIN
  962. ENOXAPARIN [Concomitant]
     Active Substance: ENOXAPARIN
  963. ENOXAPARIN [Concomitant]
     Active Substance: ENOXAPARIN
  964. ENOXAPARIN [Concomitant]
     Active Substance: ENOXAPARIN
  965. ENOXAPARIN [Concomitant]
     Active Substance: ENOXAPARIN
  966. ENOXAPARIN [Concomitant]
     Active Substance: ENOXAPARIN
  967. ENOXAPARIN [Concomitant]
     Active Substance: ENOXAPARIN
  968. ENOXAPARIN [Concomitant]
     Active Substance: ENOXAPARIN
  969. ENOXAPARIN [Concomitant]
     Active Substance: ENOXAPARIN
  970. ENOXAPARIN [Concomitant]
     Active Substance: ENOXAPARIN
  971. ENOXAPARIN [Concomitant]
     Active Substance: ENOXAPARIN
  972. ENOXAPARIN [Concomitant]
     Active Substance: ENOXAPARIN
  973. ENOXAPARIN [Concomitant]
     Active Substance: ENOXAPARIN
  974. ENOXAPARIN [Concomitant]
     Active Substance: ENOXAPARIN
  975. ENOXAPARIN [Concomitant]
     Active Substance: ENOXAPARIN
  976. ENOXAPARIN [Concomitant]
     Active Substance: ENOXAPARIN
  977. ENOXAPARIN [Concomitant]
     Active Substance: ENOXAPARIN
  978. ENOXAPARIN [Concomitant]
     Active Substance: ENOXAPARIN
  979. ENOXAPARIN [Concomitant]
     Active Substance: ENOXAPARIN
  980. ENOXAPARIN [Concomitant]
     Active Substance: ENOXAPARIN
  981. ENOXAPARIN [Concomitant]
     Active Substance: ENOXAPARIN
  982. ENOXAPARIN [Concomitant]
     Active Substance: ENOXAPARIN
  983. ENOXAPARIN [Concomitant]
     Active Substance: ENOXAPARIN
  984. ENOXAPARIN [Concomitant]
     Active Substance: ENOXAPARIN
  985. ENOXAPARIN [Concomitant]
     Active Substance: ENOXAPARIN
  986. ENOXAPARIN [Concomitant]
     Active Substance: ENOXAPARIN
  987. ENOXAPARIN [Concomitant]
     Active Substance: ENOXAPARIN
  988. ENOXAPARIN [Concomitant]
     Active Substance: ENOXAPARIN
  989. ENOXAPARIN [Concomitant]
     Active Substance: ENOXAPARIN
  990. ENOXAPARIN [Concomitant]
     Active Substance: ENOXAPARIN
  991. ENOXAPARIN [Concomitant]
     Active Substance: ENOXAPARIN
  992. ENOXAPARIN [Concomitant]
     Active Substance: ENOXAPARIN
  993. ENOXAPARIN [Concomitant]
     Active Substance: ENOXAPARIN
  994. ENOXAPARIN [Concomitant]
     Active Substance: ENOXAPARIN
  995. ENOXAPARIN [Concomitant]
     Active Substance: ENOXAPARIN
  996. ENOXAPARIN [Concomitant]
     Active Substance: ENOXAPARIN
  997. ENOXAPARIN [Concomitant]
     Active Substance: ENOXAPARIN
  998. ENOXAPARIN [Concomitant]
     Active Substance: ENOXAPARIN
  999. ENOXAPARIN [Concomitant]
     Active Substance: ENOXAPARIN
  1000. ENOXAPARIN [Concomitant]
     Active Substance: ENOXAPARIN
  1001. ENOXAPARIN [Concomitant]
     Active Substance: ENOXAPARIN
  1002. ENOXAPARIN [Concomitant]
     Active Substance: ENOXAPARIN
  1003. ENOXAPARIN [Concomitant]
     Active Substance: ENOXAPARIN
  1004. ENOXAPARIN [Concomitant]
     Active Substance: ENOXAPARIN
  1005. ENOXAPARIN [Concomitant]
     Active Substance: ENOXAPARIN
  1006. ENOXAPARIN [Concomitant]
     Active Substance: ENOXAPARIN
  1007. ENOXAPARIN [Concomitant]
     Active Substance: ENOXAPARIN
  1008. ENOXAPARIN [Concomitant]
     Active Substance: ENOXAPARIN
  1009. ENOXAPARIN [Concomitant]
     Active Substance: ENOXAPARIN
  1010. ENOXAPARIN [Concomitant]
     Active Substance: ENOXAPARIN
  1011. ENOXAPARIN [Concomitant]
     Active Substance: ENOXAPARIN
  1012. ENOXAPARIN [Concomitant]
     Active Substance: ENOXAPARIN
  1013. ENOXAPARIN [Concomitant]
     Active Substance: ENOXAPARIN
  1014. ENOXAPARIN [Concomitant]
     Active Substance: ENOXAPARIN
  1015. ENOXAPARIN [Concomitant]
     Active Substance: ENOXAPARIN
  1016. ENOXAPARIN [Concomitant]
     Active Substance: ENOXAPARIN
  1017. ENOXAPARIN [Concomitant]
     Active Substance: ENOXAPARIN
  1018. ENOXAPARIN [Concomitant]
     Active Substance: ENOXAPARIN
  1019. ENOXAPARIN [Concomitant]
     Active Substance: ENOXAPARIN
  1020. ENOXAPARIN [Concomitant]
     Active Substance: ENOXAPARIN
  1021. ENOXAPARIN [Concomitant]
     Active Substance: ENOXAPARIN
  1022. ENOXAPARIN [Concomitant]
     Active Substance: ENOXAPARIN
  1023. ENOXAPARIN [Concomitant]
     Active Substance: ENOXAPARIN
  1024. ENOXAPARIN [Concomitant]
     Active Substance: ENOXAPARIN
  1025. ENOXAPARIN [Concomitant]
     Active Substance: ENOXAPARIN
  1026. ENOXAPARIN [Concomitant]
     Active Substance: ENOXAPARIN
  1027. ENOXAPARIN [Concomitant]
     Active Substance: ENOXAPARIN
  1028. ENOXAPARIN [Concomitant]
     Active Substance: ENOXAPARIN
  1029. ENOXAPARIN [Concomitant]
     Active Substance: ENOXAPARIN
  1030. ENOXAPARIN [Concomitant]
     Active Substance: ENOXAPARIN
  1031. ENOXAPARIN [Concomitant]
     Active Substance: ENOXAPARIN
  1032. ENOXAPARIN [Concomitant]
     Active Substance: ENOXAPARIN
  1033. ENOXAPARIN [Concomitant]
     Active Substance: ENOXAPARIN
  1034. ENOXAPARIN [Concomitant]
     Active Substance: ENOXAPARIN
  1035. ENOXAPARIN [Concomitant]
     Active Substance: ENOXAPARIN
  1036. ENOXAPARIN [Concomitant]
     Active Substance: ENOXAPARIN
  1037. ENOXAPARIN [Concomitant]
     Active Substance: ENOXAPARIN
  1038. ENOXAPARIN [Concomitant]
     Active Substance: ENOXAPARIN
  1039. ENOXAPARIN [Concomitant]
     Active Substance: ENOXAPARIN
  1040. ENOXAPARIN [Concomitant]
     Active Substance: ENOXAPARIN
  1041. ENOXAPARIN [Concomitant]
     Active Substance: ENOXAPARIN
  1042. ENOXAPARIN [Concomitant]
     Active Substance: ENOXAPARIN
  1043. ENOXAPARIN [Concomitant]
     Active Substance: ENOXAPARIN
  1044. ENOXAPARIN [Concomitant]
     Active Substance: ENOXAPARIN
  1045. ENOXAPARIN [Concomitant]
     Active Substance: ENOXAPARIN
  1046. ENOXAPARIN [Concomitant]
     Active Substance: ENOXAPARIN
  1047. ENOXAPARIN [Concomitant]
     Active Substance: ENOXAPARIN
  1048. ENOXAPARIN [Concomitant]
     Active Substance: ENOXAPARIN
  1049. ENOXAPARIN [Concomitant]
     Active Substance: ENOXAPARIN
  1050. ENOXAPARIN [Concomitant]
     Active Substance: ENOXAPARIN
  1051. ENOXAPARIN [Concomitant]
     Active Substance: ENOXAPARIN
  1052. ENOXAPARIN [Concomitant]
     Active Substance: ENOXAPARIN
  1053. ENOXAPARIN [Concomitant]
     Active Substance: ENOXAPARIN
  1054. ENOXAPARIN [Concomitant]
     Active Substance: ENOXAPARIN
  1055. ENOXAPARIN [Concomitant]
     Active Substance: ENOXAPARIN
  1056. ENOXAPARIN [Concomitant]
     Active Substance: ENOXAPARIN
  1057. ENOXAPARIN [Concomitant]
     Active Substance: ENOXAPARIN
  1058. ENOXAPARIN [Concomitant]
     Active Substance: ENOXAPARIN
  1059. ENOXAPARIN [Concomitant]
     Active Substance: ENOXAPARIN
  1060. ENOXAPARIN [Concomitant]
     Active Substance: ENOXAPARIN
  1061. ENOXAPARIN [Concomitant]
     Active Substance: ENOXAPARIN
  1062. ENOXAPARIN [Concomitant]
     Active Substance: ENOXAPARIN
  1063. ENOXAPARIN [Concomitant]
     Active Substance: ENOXAPARIN
  1064. ENOXAPARIN [Concomitant]
     Active Substance: ENOXAPARIN
  1065. ENOXAPARIN [Concomitant]
     Active Substance: ENOXAPARIN
  1066. ENOXAPARIN [Concomitant]
     Active Substance: ENOXAPARIN
  1067. ENOXAPARIN [Concomitant]
     Active Substance: ENOXAPARIN
  1068. ENOXAPARIN [Concomitant]
     Active Substance: ENOXAPARIN
  1069. ENOXAPARIN [Concomitant]
     Active Substance: ENOXAPARIN
  1070. ENOXAPARIN [Concomitant]
     Active Substance: ENOXAPARIN
  1071. ENOXAPARIN [Concomitant]
     Active Substance: ENOXAPARIN
  1072. ENOXAPARIN [Concomitant]
     Active Substance: ENOXAPARIN
  1073. ENOXAPARIN [Concomitant]
     Active Substance: ENOXAPARIN
  1074. ENOXAPARIN [Concomitant]
     Active Substance: ENOXAPARIN
  1075. ENOXAPARIN [Concomitant]
     Active Substance: ENOXAPARIN
  1076. ENOXAPARIN [Concomitant]
     Active Substance: ENOXAPARIN
  1077. ENOXAPARIN [Concomitant]
     Active Substance: ENOXAPARIN
  1078. ENOXAPARIN [Concomitant]
     Active Substance: ENOXAPARIN
  1079. ENOXAPARIN [Concomitant]
     Active Substance: ENOXAPARIN
  1080. ENOXAPARIN [Concomitant]
     Active Substance: ENOXAPARIN
  1081. ENOXAPARIN [Concomitant]
     Active Substance: ENOXAPARIN
  1082. ENOXAPARIN [Concomitant]
     Active Substance: ENOXAPARIN
  1083. ENOXAPARIN [Concomitant]
     Active Substance: ENOXAPARIN
  1084. ENOXAPARIN [Concomitant]
     Active Substance: ENOXAPARIN
  1085. ENOXAPARIN [Concomitant]
     Active Substance: ENOXAPARIN
  1086. ENOXAPARIN [Concomitant]
     Active Substance: ENOXAPARIN
  1087. ENOXAPARIN [Concomitant]
     Active Substance: ENOXAPARIN
  1088. ENOXAPARIN [Concomitant]
     Active Substance: ENOXAPARIN
  1089. ENOXAPARIN [Concomitant]
     Active Substance: ENOXAPARIN
  1090. ENOXAPARIN [Concomitant]
     Active Substance: ENOXAPARIN
  1091. ENOXAPARIN [Concomitant]
     Active Substance: ENOXAPARIN
  1092. ENOXAPARIN [Concomitant]
     Active Substance: ENOXAPARIN
  1093. ENOXAPARIN [Concomitant]
     Active Substance: ENOXAPARIN
  1094. ENOXAPARIN [Concomitant]
     Active Substance: ENOXAPARIN
  1095. ENOXAPARIN [Concomitant]
     Active Substance: ENOXAPARIN
  1096. ENOXAPARIN [Concomitant]
     Active Substance: ENOXAPARIN
  1097. ENOXAPARIN [Concomitant]
     Active Substance: ENOXAPARIN
  1098. ENOXAPARIN [Concomitant]
     Active Substance: ENOXAPARIN
  1099. ENOXAPARIN [Concomitant]
     Active Substance: ENOXAPARIN
  1100. ENOXAPARIN [Concomitant]
     Active Substance: ENOXAPARIN
  1101. ENOXAPARIN [Concomitant]
     Active Substance: ENOXAPARIN
  1102. ENOXAPARIN [Concomitant]
     Active Substance: ENOXAPARIN
  1103. ENOXAPARIN [Concomitant]
     Active Substance: ENOXAPARIN
  1104. ENOXAPARIN [Concomitant]
     Active Substance: ENOXAPARIN
  1105. ENOXAPARIN [Concomitant]
     Active Substance: ENOXAPARIN
  1106. ENOXAPARIN [Concomitant]
     Active Substance: ENOXAPARIN
  1107. ENOXAPARIN [Concomitant]
     Active Substance: ENOXAPARIN
  1108. ENOXAPARIN [Concomitant]
     Active Substance: ENOXAPARIN
  1109. ENOXAPARIN [Concomitant]
     Active Substance: ENOXAPARIN
  1110. ENOXAPARIN [Concomitant]
     Active Substance: ENOXAPARIN
  1111. ENOXAPARIN [Concomitant]
     Active Substance: ENOXAPARIN
  1112. ENOXAPARIN [Concomitant]
     Active Substance: ENOXAPARIN
  1113. ENOXAPARIN [Concomitant]
     Active Substance: ENOXAPARIN
  1114. ENOXAPARIN [Concomitant]
     Active Substance: ENOXAPARIN
  1115. ENOXAPARIN [Concomitant]
     Active Substance: ENOXAPARIN
  1116. ENOXAPARIN [Concomitant]
     Active Substance: ENOXAPARIN
  1117. ENOXAPARIN [Concomitant]
     Active Substance: ENOXAPARIN
  1118. ENOXAPARIN [Concomitant]
     Active Substance: ENOXAPARIN
  1119. ENOXAPARIN [Concomitant]
     Active Substance: ENOXAPARIN
  1120. ENOXAPARIN [Concomitant]
     Active Substance: ENOXAPARIN
  1121. ENOXAPARIN [Concomitant]
     Active Substance: ENOXAPARIN
  1122. ENOXAPARIN [Concomitant]
     Active Substance: ENOXAPARIN
  1123. ENOXAPARIN [Concomitant]
     Active Substance: ENOXAPARIN
  1124. ENOXAPARIN [Concomitant]
     Active Substance: ENOXAPARIN
  1125. ENOXAPARIN [Concomitant]
     Active Substance: ENOXAPARIN
  1126. ENOXAPARIN [Concomitant]
     Active Substance: ENOXAPARIN
  1127. ENOXAPARIN [Concomitant]
     Active Substance: ENOXAPARIN
  1128. ENOXAPARIN [Concomitant]
     Active Substance: ENOXAPARIN
  1129. ENOXAPARIN [Concomitant]
     Active Substance: ENOXAPARIN
  1130. ENOXAPARIN [Concomitant]
     Active Substance: ENOXAPARIN
  1131. ENOXAPARIN [Concomitant]
     Active Substance: ENOXAPARIN
  1132. ENOXAPARIN [Concomitant]
     Active Substance: ENOXAPARIN
  1133. ENOXAPARIN [Concomitant]
     Active Substance: ENOXAPARIN
  1134. ENOXAPARIN [Concomitant]
     Active Substance: ENOXAPARIN
  1135. ENOXAPARIN [Concomitant]
     Active Substance: ENOXAPARIN
  1136. ENOXAPARIN [Concomitant]
     Active Substance: ENOXAPARIN
  1137. ENOXAPARIN [Concomitant]
     Active Substance: ENOXAPARIN
  1138. ENOXAPARIN [Concomitant]
     Active Substance: ENOXAPARIN
  1139. ENOXAPARIN [Concomitant]
     Active Substance: ENOXAPARIN
  1140. ENOXAPARIN [Concomitant]
     Active Substance: ENOXAPARIN
  1141. ENOXAPARIN [Concomitant]
     Active Substance: ENOXAPARIN
  1142. ENOXAPARIN [Concomitant]
     Active Substance: ENOXAPARIN
  1143. ENOXAPARIN [Concomitant]
     Active Substance: ENOXAPARIN
  1144. ENOXAPARIN [Concomitant]
     Active Substance: ENOXAPARIN
  1145. ENOXAPARIN [Concomitant]
     Active Substance: ENOXAPARIN
  1146. ENOXAPARIN [Concomitant]
     Active Substance: ENOXAPARIN
  1147. ENOXAPARIN [Concomitant]
     Active Substance: ENOXAPARIN
  1148. ENOXAPARIN [Concomitant]
     Active Substance: ENOXAPARIN
  1149. ENOXAPARIN [Concomitant]
     Active Substance: ENOXAPARIN
  1150. ENOXAPARIN [Concomitant]
     Active Substance: ENOXAPARIN
  1151. ENOXAPARIN [Concomitant]
     Active Substance: ENOXAPARIN
  1152. ENOXAPARIN [Concomitant]
     Active Substance: ENOXAPARIN
  1153. ENOXAPARIN [Concomitant]
     Active Substance: ENOXAPARIN
  1154. ENOXAPARIN [Concomitant]
     Active Substance: ENOXAPARIN
  1155. ENOXAPARIN [Concomitant]
     Active Substance: ENOXAPARIN
  1156. ENOXAPARIN [Concomitant]
     Active Substance: ENOXAPARIN
  1157. ENOXAPARIN [Concomitant]
     Active Substance: ENOXAPARIN
  1158. ENOXAPARIN [Concomitant]
     Active Substance: ENOXAPARIN
  1159. ENOXAPARIN [Concomitant]
     Active Substance: ENOXAPARIN
  1160. ENOXAPARIN [Concomitant]
     Active Substance: ENOXAPARIN
  1161. ENOXAPARIN [Concomitant]
     Active Substance: ENOXAPARIN
  1162. ENOXAPARIN [Concomitant]
     Active Substance: ENOXAPARIN
  1163. ENOXAPARIN [Concomitant]
     Active Substance: ENOXAPARIN
  1164. ENOXAPARIN [Concomitant]
     Active Substance: ENOXAPARIN
  1165. ENOXAPARIN [Concomitant]
     Active Substance: ENOXAPARIN
  1166. ENOXAPARIN [Concomitant]
     Active Substance: ENOXAPARIN
  1167. ENOXAPARIN [Concomitant]
     Active Substance: ENOXAPARIN
  1168. ENOXAPARIN [Concomitant]
     Active Substance: ENOXAPARIN
  1169. ENOXAPARIN [Concomitant]
     Active Substance: ENOXAPARIN
  1170. ENOXAPARIN [Concomitant]
     Active Substance: ENOXAPARIN
  1171. ENOXAPARIN [Concomitant]
     Active Substance: ENOXAPARIN
  1172. ENOXAPARIN [Concomitant]
     Active Substance: ENOXAPARIN
  1173. ENOXAPARIN [Concomitant]
     Active Substance: ENOXAPARIN
  1174. ENOXAPARIN [Concomitant]
     Active Substance: ENOXAPARIN
  1175. ENOXAPARIN [Concomitant]
     Active Substance: ENOXAPARIN
  1176. ENOXAPARIN [Concomitant]
     Active Substance: ENOXAPARIN
  1177. ENOXAPARIN [Concomitant]
     Active Substance: ENOXAPARIN
  1178. ENOXAPARIN [Concomitant]
     Active Substance: ENOXAPARIN
  1179. ENOXAPARIN [Concomitant]
     Active Substance: ENOXAPARIN
  1180. ENOXAPARIN [Concomitant]
     Active Substance: ENOXAPARIN
  1181. ENOXAPARIN [Concomitant]
     Active Substance: ENOXAPARIN
  1182. ENOXAPARIN [Concomitant]
     Active Substance: ENOXAPARIN
  1183. ENOXAPARIN [Concomitant]
     Active Substance: ENOXAPARIN
  1184. ENOXAPARIN [Concomitant]
     Active Substance: ENOXAPARIN
  1185. ENOXAPARIN [Concomitant]
     Active Substance: ENOXAPARIN
  1186. ENOXAPARIN [Concomitant]
     Active Substance: ENOXAPARIN
  1187. ENOXAPARIN [Concomitant]
     Active Substance: ENOXAPARIN
  1188. ENOXAPARIN [Concomitant]
     Active Substance: ENOXAPARIN
  1189. ENOXAPARIN [Concomitant]
     Active Substance: ENOXAPARIN
  1190. ENOXAPARIN [Concomitant]
     Active Substance: ENOXAPARIN
  1191. ENOXAPARIN [Concomitant]
     Active Substance: ENOXAPARIN
  1192. ENOXAPARIN [Concomitant]
     Active Substance: ENOXAPARIN
  1193. ENOXAPARIN [Concomitant]
     Active Substance: ENOXAPARIN
  1194. ENOXAPARIN [Concomitant]
     Active Substance: ENOXAPARIN
  1195. ENOXAPARIN [Concomitant]
     Active Substance: ENOXAPARIN
  1196. ENOXAPARIN [Concomitant]
     Active Substance: ENOXAPARIN
  1197. ENOXAPARIN [Concomitant]
     Active Substance: ENOXAPARIN
  1198. ENOXAPARIN [Concomitant]
     Active Substance: ENOXAPARIN
  1199. ENOXAPARIN [Concomitant]
     Active Substance: ENOXAPARIN
  1200. ENOXAPARIN [Concomitant]
     Active Substance: ENOXAPARIN
  1201. ENOXAPARIN [Concomitant]
     Active Substance: ENOXAPARIN
  1202. ENOXAPARIN [Concomitant]
     Active Substance: ENOXAPARIN
  1203. ENOXAPARIN [Concomitant]
     Active Substance: ENOXAPARIN
  1204. ENOXAPARIN [Concomitant]
     Active Substance: ENOXAPARIN
  1205. ENOXAPARIN [Concomitant]
     Active Substance: ENOXAPARIN
  1206. ENOXAPARIN [Concomitant]
     Active Substance: ENOXAPARIN
  1207. ENOXAPARIN [Concomitant]
     Active Substance: ENOXAPARIN
  1208. ENOXAPARIN [Concomitant]
     Active Substance: ENOXAPARIN
  1209. ENOXAPARIN [Concomitant]
     Active Substance: ENOXAPARIN
  1210. ENOXAPARIN [Concomitant]
     Active Substance: ENOXAPARIN
  1211. ENOXAPARIN [Concomitant]
     Active Substance: ENOXAPARIN
  1212. ENOXAPARIN [Concomitant]
     Active Substance: ENOXAPARIN
  1213. ENOXAPARIN [Concomitant]
     Active Substance: ENOXAPARIN
  1214. ENOXAPARIN [Concomitant]
     Active Substance: ENOXAPARIN
  1215. ENOXAPARIN [Concomitant]
     Active Substance: ENOXAPARIN
  1216. ENOXAPARIN [Concomitant]
     Active Substance: ENOXAPARIN
  1217. ENOXAPARIN [Concomitant]
     Active Substance: ENOXAPARIN
  1218. ENOXAPARIN [Concomitant]
     Active Substance: ENOXAPARIN
  1219. ENOXAPARIN [Concomitant]
     Active Substance: ENOXAPARIN
  1220. ENOXAPARIN [Concomitant]
     Active Substance: ENOXAPARIN
  1221. ENOXAPARIN [Concomitant]
     Active Substance: ENOXAPARIN
  1222. ENOXAPARIN [Concomitant]
     Active Substance: ENOXAPARIN
  1223. ENOXAPARIN [Concomitant]
     Active Substance: ENOXAPARIN
  1224. ENOXAPARIN [Concomitant]
     Active Substance: ENOXAPARIN
  1225. ENOXAPARIN [Concomitant]
     Active Substance: ENOXAPARIN
  1226. ENOXAPARIN [Concomitant]
     Active Substance: ENOXAPARIN
  1227. ENOXAPARIN [Concomitant]
     Active Substance: ENOXAPARIN
  1228. ENOXAPARIN [Concomitant]
     Active Substance: ENOXAPARIN
  1229. ENOXAPARIN [Concomitant]
     Active Substance: ENOXAPARIN
  1230. ENOXAPARIN [Concomitant]
     Active Substance: ENOXAPARIN
  1231. ENOXAPARIN [Concomitant]
     Active Substance: ENOXAPARIN
  1232. ENOXAPARIN [Concomitant]
     Active Substance: ENOXAPARIN
  1233. ENOXAPARIN [Concomitant]
     Active Substance: ENOXAPARIN
  1234. ENOXAPARIN [Concomitant]
     Active Substance: ENOXAPARIN
  1235. ENOXAPARIN [Concomitant]
     Active Substance: ENOXAPARIN
  1236. ENOXAPARIN [Concomitant]
     Active Substance: ENOXAPARIN
  1237. ENOXAPARIN [Concomitant]
     Active Substance: ENOXAPARIN
  1238. ENOXAPARIN [Concomitant]
     Active Substance: ENOXAPARIN
  1239. ENOXAPARIN [Concomitant]
     Active Substance: ENOXAPARIN
  1240. ENOXAPARIN [Concomitant]
     Active Substance: ENOXAPARIN
  1241. ENOXAPARIN [Concomitant]
     Active Substance: ENOXAPARIN
  1242. ENOXAPARIN [Concomitant]
     Active Substance: ENOXAPARIN
  1243. ENOXAPARIN [Concomitant]
     Active Substance: ENOXAPARIN
  1244. ENOXAPARIN [Concomitant]
     Active Substance: ENOXAPARIN
  1245. ENOXAPARIN [Concomitant]
     Active Substance: ENOXAPARIN
  1246. ENOXAPARIN [Concomitant]
     Active Substance: ENOXAPARIN
  1247. ENOXAPARIN [Concomitant]
     Active Substance: ENOXAPARIN
  1248. ENOXAPARIN [Concomitant]
     Active Substance: ENOXAPARIN
  1249. ENOXAPARIN [Concomitant]
     Active Substance: ENOXAPARIN
  1250. ENOXAPARIN [Concomitant]
     Active Substance: ENOXAPARIN
  1251. ENOXAPARIN [Concomitant]
     Active Substance: ENOXAPARIN
  1252. ENOXAPARIN [Concomitant]
     Active Substance: ENOXAPARIN
  1253. ENOXAPARIN [Concomitant]
     Active Substance: ENOXAPARIN
  1254. ENOXAPARIN [Concomitant]
     Active Substance: ENOXAPARIN
  1255. ENOXAPARIN [Concomitant]
     Active Substance: ENOXAPARIN
  1256. ENOXAPARIN [Concomitant]
     Active Substance: ENOXAPARIN
  1257. ENOXAPARIN [Concomitant]
     Active Substance: ENOXAPARIN
  1258. ENOXAPARIN [Concomitant]
     Active Substance: ENOXAPARIN
  1259. ENOXAPARIN [Concomitant]
     Active Substance: ENOXAPARIN
  1260. ENOXAPARIN [Concomitant]
     Active Substance: ENOXAPARIN
  1261. ENOXAPARIN [Concomitant]
     Active Substance: ENOXAPARIN
  1262. ENOXAPARIN [Concomitant]
     Active Substance: ENOXAPARIN
  1263. ENOXAPARIN [Concomitant]
     Active Substance: ENOXAPARIN
  1264. ENOXAPARIN [Concomitant]
     Active Substance: ENOXAPARIN
  1265. ENOXAPARIN [Concomitant]
     Active Substance: ENOXAPARIN
  1266. ENOXAPARIN [Concomitant]
     Active Substance: ENOXAPARIN
  1267. ENOXAPARIN [Concomitant]
     Active Substance: ENOXAPARIN
  1268. ENOXAPARIN [Concomitant]
     Active Substance: ENOXAPARIN
  1269. ENOXAPARIN [Concomitant]
     Active Substance: ENOXAPARIN
  1270. ENOXAPARIN [Concomitant]
     Active Substance: ENOXAPARIN
  1271. ENOXAPARIN [Concomitant]
     Active Substance: ENOXAPARIN
  1272. ENOXAPARIN [Concomitant]
     Active Substance: ENOXAPARIN
  1273. ENOXAPARIN [Concomitant]
     Active Substance: ENOXAPARIN
  1274. ENOXAPARIN [Concomitant]
     Active Substance: ENOXAPARIN
  1275. ENOXAPARIN [Concomitant]
     Active Substance: ENOXAPARIN
  1276. ENOXAPARIN [Concomitant]
     Active Substance: ENOXAPARIN
  1277. ENOXAPARIN [Concomitant]
     Active Substance: ENOXAPARIN
  1278. ENOXAPARIN [Concomitant]
     Active Substance: ENOXAPARIN
  1279. ENOXAPARIN [Concomitant]
     Active Substance: ENOXAPARIN
  1280. ENOXAPARIN [Concomitant]
     Active Substance: ENOXAPARIN
  1281. ENOXAPARIN [Concomitant]
     Active Substance: ENOXAPARIN
  1282. ENOXAPARIN [Concomitant]
     Active Substance: ENOXAPARIN
  1283. ENOXAPARIN [Concomitant]
     Active Substance: ENOXAPARIN
  1284. ENOXAPARIN [Concomitant]
     Active Substance: ENOXAPARIN
  1285. ENOXAPARIN [Concomitant]
     Active Substance: ENOXAPARIN
  1286. ENOXAPARIN [Concomitant]
     Active Substance: ENOXAPARIN
  1287. ENOXAPARIN [Concomitant]
     Active Substance: ENOXAPARIN
  1288. ENOXAPARIN [Concomitant]
     Active Substance: ENOXAPARIN
  1289. ENOXAPARIN [Concomitant]
     Active Substance: ENOXAPARIN
  1290. ENOXAPARIN [Concomitant]
     Active Substance: ENOXAPARIN
  1291. ENOXAPARIN [Concomitant]
     Active Substance: ENOXAPARIN
  1292. ENOXAPARIN [Concomitant]
     Active Substance: ENOXAPARIN
  1293. ENOXAPARIN [Concomitant]
     Active Substance: ENOXAPARIN
  1294. ENOXAPARIN [Concomitant]
     Active Substance: ENOXAPARIN
  1295. ENOXAPARIN [Concomitant]
     Active Substance: ENOXAPARIN
  1296. ENOXAPARIN [Concomitant]
     Active Substance: ENOXAPARIN
  1297. ENOXAPARIN [Concomitant]
     Active Substance: ENOXAPARIN
  1298. ENOXAPARIN [Concomitant]
     Active Substance: ENOXAPARIN
  1299. ENOXAPARIN [Concomitant]
     Active Substance: ENOXAPARIN
  1300. ENOXAPARIN [Concomitant]
     Active Substance: ENOXAPARIN
  1301. ENOXAPARIN [Concomitant]
     Active Substance: ENOXAPARIN
  1302. ENOXAPARIN [Concomitant]
     Active Substance: ENOXAPARIN
  1303. ENOXAPARIN [Concomitant]
     Active Substance: ENOXAPARIN
  1304. ENOXAPARIN [Concomitant]
     Active Substance: ENOXAPARIN
  1305. ENOXAPARIN [Concomitant]
     Active Substance: ENOXAPARIN
  1306. ENOXAPARIN [Concomitant]
     Active Substance: ENOXAPARIN
  1307. ENOXAPARIN [Concomitant]
     Active Substance: ENOXAPARIN
  1308. ENOXAPARIN [Concomitant]
     Active Substance: ENOXAPARIN
  1309. ENOXAPARIN [Concomitant]
     Active Substance: ENOXAPARIN
  1310. ENOXAPARIN [Concomitant]
     Active Substance: ENOXAPARIN
  1311. ENOXAPARIN [Concomitant]
     Active Substance: ENOXAPARIN
  1312. ENOXAPARIN [Concomitant]
     Active Substance: ENOXAPARIN
  1313. ENOXAPARIN [Concomitant]
     Active Substance: ENOXAPARIN
  1314. ENOXAPARIN [Concomitant]
     Active Substance: ENOXAPARIN
  1315. ENOXAPARIN [Concomitant]
     Active Substance: ENOXAPARIN
  1316. ENOXAPARIN [Concomitant]
     Active Substance: ENOXAPARIN
  1317. ENOXAPARIN [Concomitant]
     Active Substance: ENOXAPARIN
  1318. ENOXAPARIN [Concomitant]
     Active Substance: ENOXAPARIN
  1319. ENOXAPARIN [Concomitant]
     Active Substance: ENOXAPARIN
  1320. ENOXAPARIN [Concomitant]
     Active Substance: ENOXAPARIN
  1321. ENOXAPARIN [Concomitant]
     Active Substance: ENOXAPARIN
  1322. ENOXAPARIN [Concomitant]
     Active Substance: ENOXAPARIN
  1323. ENOXAPARIN [Concomitant]
     Active Substance: ENOXAPARIN
  1324. ENOXAPARIN [Concomitant]
     Active Substance: ENOXAPARIN
  1325. ENOXAPARIN [Concomitant]
     Active Substance: ENOXAPARIN
  1326. ENOXAPARIN [Concomitant]
     Active Substance: ENOXAPARIN
  1327. ENOXAPARIN [Concomitant]
     Active Substance: ENOXAPARIN
  1328. ENOXAPARIN [Concomitant]
     Active Substance: ENOXAPARIN
  1329. ENOXAPARIN [Concomitant]
     Active Substance: ENOXAPARIN
  1330. ENOXAPARIN [Concomitant]
     Active Substance: ENOXAPARIN
  1331. ENOXAPARIN [Concomitant]
     Active Substance: ENOXAPARIN
  1332. ENOXAPARIN [Concomitant]
     Active Substance: ENOXAPARIN
  1333. ENOXAPARIN [Concomitant]
     Active Substance: ENOXAPARIN
  1334. ENOXAPARIN [Concomitant]
     Active Substance: ENOXAPARIN
  1335. ENOXAPARIN [Concomitant]
     Active Substance: ENOXAPARIN
  1336. ENOXAPARIN [Concomitant]
     Active Substance: ENOXAPARIN
  1337. ENOXAPARIN [Concomitant]
     Active Substance: ENOXAPARIN
  1338. ENOXAPARIN [Concomitant]
     Active Substance: ENOXAPARIN
  1339. ENOXAPARIN [Concomitant]
     Active Substance: ENOXAPARIN
  1340. ENOXAPARIN [Concomitant]
     Active Substance: ENOXAPARIN
  1341. ENOXAPARIN [Concomitant]
     Active Substance: ENOXAPARIN
  1342. ENOXAPARIN [Concomitant]
     Active Substance: ENOXAPARIN
  1343. ENOXAPARIN [Concomitant]
     Active Substance: ENOXAPARIN
  1344. ENOXAPARIN [Concomitant]
     Active Substance: ENOXAPARIN
  1345. ENOXAPARIN [Concomitant]
     Active Substance: ENOXAPARIN
  1346. ENOXAPARIN [Concomitant]
     Active Substance: ENOXAPARIN
  1347. ENOXAPARIN [Concomitant]
     Active Substance: ENOXAPARIN
  1348. ENOXAPARIN [Concomitant]
     Active Substance: ENOXAPARIN
  1349. ENOXAPARIN [Concomitant]
     Active Substance: ENOXAPARIN
  1350. ENOXAPARIN [Concomitant]
     Active Substance: ENOXAPARIN
  1351. ENOXAPARIN [Concomitant]
     Active Substance: ENOXAPARIN
  1352. ENOXAPARIN [Concomitant]
     Active Substance: ENOXAPARIN
  1353. ENOXAPARIN [Concomitant]
     Active Substance: ENOXAPARIN
  1354. ENOXAPARIN [Concomitant]
     Active Substance: ENOXAPARIN
  1355. ENOXAPARIN [Concomitant]
     Active Substance: ENOXAPARIN
  1356. ENOXAPARIN [Concomitant]
     Active Substance: ENOXAPARIN
  1357. ENOXAPARIN [Concomitant]
     Active Substance: ENOXAPARIN
  1358. ENOXAPARIN [Concomitant]
     Active Substance: ENOXAPARIN
  1359. ENOXAPARIN [Concomitant]
     Active Substance: ENOXAPARIN
  1360. ENOXAPARIN [Concomitant]
     Active Substance: ENOXAPARIN
  1361. ENOXAPARIN [Concomitant]
     Active Substance: ENOXAPARIN
  1362. ENOXAPARIN [Concomitant]
     Active Substance: ENOXAPARIN
  1363. ENOXAPARIN [Concomitant]
     Active Substance: ENOXAPARIN
  1364. ENOXAPARIN [Concomitant]
     Active Substance: ENOXAPARIN
  1365. ENOXAPARIN [Concomitant]
     Active Substance: ENOXAPARIN
  1366. ENOXAPARIN [Concomitant]
     Active Substance: ENOXAPARIN
  1367. ENOXAPARIN [Concomitant]
     Active Substance: ENOXAPARIN
  1368. ENOXAPARIN [Concomitant]
     Active Substance: ENOXAPARIN
  1369. ENOXAPARIN [Concomitant]
     Active Substance: ENOXAPARIN
  1370. ENOXAPARIN [Concomitant]
     Active Substance: ENOXAPARIN
  1371. ENOXAPARIN [Concomitant]
     Active Substance: ENOXAPARIN
  1372. ENOXAPARIN [Concomitant]
     Active Substance: ENOXAPARIN
  1373. ENOXAPARIN [Concomitant]
     Active Substance: ENOXAPARIN
  1374. ENOXAPARIN [Concomitant]
     Active Substance: ENOXAPARIN
  1375. ENOXAPARIN [Concomitant]
     Active Substance: ENOXAPARIN
  1376. ENOXAPARIN [Concomitant]
     Active Substance: ENOXAPARIN
  1377. ENOXAPARIN [Concomitant]
     Active Substance: ENOXAPARIN
  1378. ENOXAPARIN [Concomitant]
     Active Substance: ENOXAPARIN
  1379. ENOXAPARIN [Concomitant]
     Active Substance: ENOXAPARIN
  1380. ENOXAPARIN [Concomitant]
     Active Substance: ENOXAPARIN
  1381. ENOXAPARIN [Concomitant]
     Active Substance: ENOXAPARIN
  1382. ENOXAPARIN [Concomitant]
     Active Substance: ENOXAPARIN
  1383. ENOXAPARIN [Concomitant]
     Active Substance: ENOXAPARIN
  1384. ENOXAPARIN [Concomitant]
     Active Substance: ENOXAPARIN
  1385. ENOXAPARIN [Concomitant]
     Active Substance: ENOXAPARIN
  1386. ENOXAPARIN [Concomitant]
     Active Substance: ENOXAPARIN
  1387. ENOXAPARIN [Concomitant]
     Active Substance: ENOXAPARIN
  1388. ENOXAPARIN [Concomitant]
     Active Substance: ENOXAPARIN
  1389. ENOXAPARIN [Concomitant]
     Active Substance: ENOXAPARIN
  1390. ENOXAPARIN [Concomitant]
     Active Substance: ENOXAPARIN
  1391. ENOXAPARIN [Concomitant]
     Active Substance: ENOXAPARIN
  1392. ENOXAPARIN [Concomitant]
     Active Substance: ENOXAPARIN
  1393. ENOXAPARIN [Concomitant]
     Active Substance: ENOXAPARIN
  1394. ENOXAPARIN [Concomitant]
     Active Substance: ENOXAPARIN
  1395. ENOXAPARIN [Concomitant]
     Active Substance: ENOXAPARIN
  1396. ENOXAPARIN [Concomitant]
     Active Substance: ENOXAPARIN
  1397. ENOXAPARIN [Concomitant]
     Active Substance: ENOXAPARIN
  1398. ENOXAPARIN [Concomitant]
     Active Substance: ENOXAPARIN
  1399. ENOXAPARIN [Concomitant]
     Active Substance: ENOXAPARIN
  1400. ENOXAPARIN [Concomitant]
     Active Substance: ENOXAPARIN
  1401. ENOXAPARIN [Concomitant]
     Active Substance: ENOXAPARIN
  1402. ENOXAPARIN [Concomitant]
     Active Substance: ENOXAPARIN
  1403. ENOXAPARIN [Concomitant]
     Active Substance: ENOXAPARIN
  1404. ENOXAPARIN [Concomitant]
     Active Substance: ENOXAPARIN
  1405. ENOXAPARIN [Concomitant]
     Active Substance: ENOXAPARIN
  1406. ENOXAPARIN [Concomitant]
     Active Substance: ENOXAPARIN
  1407. ENOXAPARIN [Concomitant]
     Active Substance: ENOXAPARIN
  1408. ENOXAPARIN [Concomitant]
     Active Substance: ENOXAPARIN
  1409. ENOXAPARIN [Concomitant]
     Active Substance: ENOXAPARIN
  1410. ENOXAPARIN [Concomitant]
     Active Substance: ENOXAPARIN
  1411. ENOXAPARIN [Concomitant]
     Active Substance: ENOXAPARIN
  1412. ENOXAPARIN [Concomitant]
     Active Substance: ENOXAPARIN
  1413. ENOXAPARIN [Concomitant]
     Active Substance: ENOXAPARIN
  1414. ENOXAPARIN [Concomitant]
     Active Substance: ENOXAPARIN
  1415. ENOXAPARIN [Concomitant]
     Active Substance: ENOXAPARIN
  1416. ENOXAPARIN [Concomitant]
     Active Substance: ENOXAPARIN
  1417. ENOXAPARIN [Concomitant]
     Active Substance: ENOXAPARIN
  1418. ENOXAPARIN [Concomitant]
     Active Substance: ENOXAPARIN
  1419. ENOXAPARIN [Concomitant]
     Active Substance: ENOXAPARIN
  1420. ENOXAPARIN [Concomitant]
     Active Substance: ENOXAPARIN
  1421. ENOXAPARIN [Concomitant]
     Active Substance: ENOXAPARIN
  1422. ENOXAPARIN [Concomitant]
     Active Substance: ENOXAPARIN
  1423. ENOXAPARIN [Concomitant]
     Active Substance: ENOXAPARIN
  1424. ENOXAPARIN [Concomitant]
     Active Substance: ENOXAPARIN
  1425. ENOXAPARIN [Concomitant]
     Active Substance: ENOXAPARIN
  1426. ENOXAPARIN [Concomitant]
     Active Substance: ENOXAPARIN
  1427. ENOXAPARIN [Concomitant]
     Active Substance: ENOXAPARIN
  1428. ENOXAPARIN [Concomitant]
     Active Substance: ENOXAPARIN
  1429. ENOXAPARIN [Concomitant]
     Active Substance: ENOXAPARIN
  1430. ENOXAPARIN [Concomitant]
     Active Substance: ENOXAPARIN
  1431. ENOXAPARIN [Concomitant]
     Active Substance: ENOXAPARIN
  1432. ENOXAPARIN [Concomitant]
     Active Substance: ENOXAPARIN
  1433. ENOXAPARIN [Concomitant]
     Active Substance: ENOXAPARIN
  1434. ENOXAPARIN [Concomitant]
     Active Substance: ENOXAPARIN
  1435. ENOXAPARIN [Concomitant]
     Active Substance: ENOXAPARIN
  1436. ENOXAPARIN [Concomitant]
     Active Substance: ENOXAPARIN
  1437. ENOXAPARIN [Concomitant]
     Active Substance: ENOXAPARIN
  1438. ENOXAPARIN [Concomitant]
     Active Substance: ENOXAPARIN
  1439. ENOXAPARIN [Concomitant]
     Active Substance: ENOXAPARIN
  1440. ENOXAPARIN [Concomitant]
     Active Substance: ENOXAPARIN
  1441. ENOXAPARIN [Concomitant]
     Active Substance: ENOXAPARIN
  1442. ENOXAPARIN [Concomitant]
     Active Substance: ENOXAPARIN
  1443. ENOXAPARIN [Concomitant]
     Active Substance: ENOXAPARIN
  1444. ENOXAPARIN [Concomitant]
     Active Substance: ENOXAPARIN
  1445. ENOXAPARIN [Concomitant]
     Active Substance: ENOXAPARIN
  1446. ENOXAPARIN [Concomitant]
     Active Substance: ENOXAPARIN
  1447. ENOXAPARIN [Concomitant]
     Active Substance: ENOXAPARIN
  1448. ENOXAPARIN [Concomitant]
     Active Substance: ENOXAPARIN
  1449. ENOXAPARIN [Concomitant]
     Active Substance: ENOXAPARIN
  1450. ENOXAPARIN [Concomitant]
     Active Substance: ENOXAPARIN
  1451. ENOXAPARIN [Concomitant]
     Active Substance: ENOXAPARIN
  1452. ENOXAPARIN [Concomitant]
     Active Substance: ENOXAPARIN
  1453. ENOXAPARIN [Concomitant]
     Active Substance: ENOXAPARIN
  1454. ENOXAPARIN [Concomitant]
     Active Substance: ENOXAPARIN
  1455. ENOXAPARIN [Concomitant]
     Active Substance: ENOXAPARIN
  1456. ENOXAPARIN [Concomitant]
     Active Substance: ENOXAPARIN
  1457. ENOXAPARIN [Concomitant]
     Active Substance: ENOXAPARIN
  1458. ENOXAPARIN [Concomitant]
     Active Substance: ENOXAPARIN
  1459. ENOXAPARIN [Concomitant]
     Active Substance: ENOXAPARIN
  1460. ENOXAPARIN [Concomitant]
     Active Substance: ENOXAPARIN
  1461. ENOXAPARIN [Concomitant]
     Active Substance: ENOXAPARIN
  1462. ENOXAPARIN [Concomitant]
     Active Substance: ENOXAPARIN
  1463. ENOXAPARIN [Concomitant]
     Active Substance: ENOXAPARIN
  1464. ENOXAPARIN [Concomitant]
     Active Substance: ENOXAPARIN
  1465. ENOXAPARIN [Concomitant]
     Active Substance: ENOXAPARIN
  1466. ENOXAPARIN [Concomitant]
     Active Substance: ENOXAPARIN
  1467. ENOXAPARIN [Concomitant]
     Active Substance: ENOXAPARIN
  1468. ENOXAPARIN [Concomitant]
     Active Substance: ENOXAPARIN
  1469. ENOXAPARIN [Concomitant]
     Active Substance: ENOXAPARIN
  1470. ENOXAPARIN [Concomitant]
     Active Substance: ENOXAPARIN
  1471. ENOXAPARIN [Concomitant]
     Active Substance: ENOXAPARIN
  1472. ENOXAPARIN [Concomitant]
     Active Substance: ENOXAPARIN
  1473. ENOXAPARIN [Concomitant]
     Active Substance: ENOXAPARIN
  1474. ENOXAPARIN [Concomitant]
     Active Substance: ENOXAPARIN
  1475. ENOXAPARIN [Concomitant]
     Active Substance: ENOXAPARIN
  1476. ENOXAPARIN [Concomitant]
     Active Substance: ENOXAPARIN
  1477. ENOXAPARIN [Concomitant]
     Active Substance: ENOXAPARIN
  1478. ENOXAPARIN [Concomitant]
     Active Substance: ENOXAPARIN
  1479. ENOXAPARIN [Concomitant]
     Active Substance: ENOXAPARIN
  1480. ENOXAPARIN [Concomitant]
     Active Substance: ENOXAPARIN
  1481. ENOXAPARIN [Concomitant]
     Active Substance: ENOXAPARIN
  1482. ENOXAPARIN [Concomitant]
     Active Substance: ENOXAPARIN
  1483. ENOXAPARIN [Concomitant]
     Active Substance: ENOXAPARIN
  1484. ENOXAPARIN [Concomitant]
     Active Substance: ENOXAPARIN
  1485. ENOXAPARIN [Concomitant]
     Active Substance: ENOXAPARIN
  1486. ENOXAPARIN [Concomitant]
     Active Substance: ENOXAPARIN
  1487. ENOXAPARIN [Concomitant]
     Active Substance: ENOXAPARIN
  1488. ENOXAPARIN [Concomitant]
     Active Substance: ENOXAPARIN
  1489. ENOXAPARIN [Concomitant]
     Active Substance: ENOXAPARIN
  1490. ENOXAPARIN [Concomitant]
     Active Substance: ENOXAPARIN
  1491. ENOXAPARIN [Concomitant]
     Active Substance: ENOXAPARIN
  1492. ENOXAPARIN [Concomitant]
     Active Substance: ENOXAPARIN
  1493. ENOXAPARIN [Concomitant]
     Active Substance: ENOXAPARIN
  1494. ENOXAPARIN [Concomitant]
     Active Substance: ENOXAPARIN
  1495. ENOXAPARIN [Concomitant]
     Active Substance: ENOXAPARIN
  1496. ENOXAPARIN [Concomitant]
     Active Substance: ENOXAPARIN
  1497. ENOXAPARIN [Concomitant]
     Active Substance: ENOXAPARIN
  1498. ENOXAPARIN [Concomitant]
     Active Substance: ENOXAPARIN
  1499. ENOXAPARIN [Concomitant]
     Active Substance: ENOXAPARIN
  1500. ENOXAPARIN [Concomitant]
     Active Substance: ENOXAPARIN
  1501. ENOXAPARIN [Concomitant]
     Active Substance: ENOXAPARIN
  1502. ENOXAPARIN [Concomitant]
     Active Substance: ENOXAPARIN
  1503. ENOXAPARIN [Concomitant]
     Active Substance: ENOXAPARIN
  1504. ENOXAPARIN [Concomitant]
     Active Substance: ENOXAPARIN
  1505. ENOXAPARIN [Concomitant]
     Active Substance: ENOXAPARIN
  1506. ENOXAPARIN [Concomitant]
     Active Substance: ENOXAPARIN
  1507. ENOXAPARIN [Concomitant]
     Active Substance: ENOXAPARIN
  1508. ENOXAPARIN [Concomitant]
     Active Substance: ENOXAPARIN
  1509. ENOXAPARIN [Concomitant]
     Active Substance: ENOXAPARIN
  1510. ENOXAPARIN [Concomitant]
     Active Substance: ENOXAPARIN
  1511. ENOXAPARIN [Concomitant]
     Active Substance: ENOXAPARIN
  1512. ENOXAPARIN [Concomitant]
     Active Substance: ENOXAPARIN
  1513. ENOXAPARIN [Concomitant]
     Active Substance: ENOXAPARIN
  1514. ENOXAPARIN [Concomitant]
     Active Substance: ENOXAPARIN
  1515. ENOXAPARIN [Concomitant]
     Active Substance: ENOXAPARIN
  1516. ENOXAPARIN [Concomitant]
     Active Substance: ENOXAPARIN
  1517. ENOXAPARIN [Concomitant]
     Active Substance: ENOXAPARIN
  1518. ENOXAPARIN [Concomitant]
     Active Substance: ENOXAPARIN
  1519. ENOXAPARIN [Concomitant]
     Active Substance: ENOXAPARIN
  1520. ENOXAPARIN [Concomitant]
     Active Substance: ENOXAPARIN
  1521. ENOXAPARIN [Concomitant]
     Active Substance: ENOXAPARIN
  1522. ENOXAPARIN [Concomitant]
     Active Substance: ENOXAPARIN
  1523. ENOXAPARIN [Concomitant]
     Active Substance: ENOXAPARIN
  1524. ENOXAPARIN [Concomitant]
     Active Substance: ENOXAPARIN
  1525. ENOXAPARIN [Concomitant]
     Active Substance: ENOXAPARIN
  1526. ENOXAPARIN [Concomitant]
     Active Substance: ENOXAPARIN
  1527. ENOXAPARIN [Concomitant]
     Active Substance: ENOXAPARIN
  1528. ENOXAPARIN [Concomitant]
     Active Substance: ENOXAPARIN
  1529. ENOXAPARIN [Concomitant]
     Active Substance: ENOXAPARIN
  1530. ENOXAPARIN [Concomitant]
     Active Substance: ENOXAPARIN
  1531. ENOXAPARIN [Concomitant]
     Active Substance: ENOXAPARIN
  1532. ENOXAPARIN [Concomitant]
     Active Substance: ENOXAPARIN
  1533. ENOXAPARIN [Concomitant]
     Active Substance: ENOXAPARIN
  1534. ENOXAPARIN [Concomitant]
     Active Substance: ENOXAPARIN
  1535. ENOXAPARIN [Concomitant]
     Active Substance: ENOXAPARIN
  1536. ENOXAPARIN [Concomitant]
     Active Substance: ENOXAPARIN
  1537. ENOXAPARIN [Concomitant]
     Active Substance: ENOXAPARIN
  1538. ENOXAPARIN [Concomitant]
     Active Substance: ENOXAPARIN
  1539. ENOXAPARIN [Concomitant]
     Active Substance: ENOXAPARIN
  1540. ENOXAPARIN [Concomitant]
     Active Substance: ENOXAPARIN
  1541. ENOXAPARIN [Concomitant]
     Active Substance: ENOXAPARIN
  1542. ENOXAPARIN [Concomitant]
     Active Substance: ENOXAPARIN
  1543. ENOXAPARIN [Concomitant]
     Active Substance: ENOXAPARIN
  1544. ENOXAPARIN [Concomitant]
     Active Substance: ENOXAPARIN
  1545. ENOXAPARIN [Concomitant]
     Active Substance: ENOXAPARIN
  1546. ENOXAPARIN [Concomitant]
     Active Substance: ENOXAPARIN
  1547. ENOXAPARIN [Concomitant]
     Active Substance: ENOXAPARIN
  1548. ENOXAPARIN [Concomitant]
     Active Substance: ENOXAPARIN
  1549. ENOXAPARIN [Concomitant]
     Active Substance: ENOXAPARIN
  1550. ENOXAPARIN [Concomitant]
     Active Substance: ENOXAPARIN
  1551. ENOXAPARIN [Concomitant]
     Active Substance: ENOXAPARIN
  1552. ENOXAPARIN [Concomitant]
     Active Substance: ENOXAPARIN
  1553. ENOXAPARIN [Concomitant]
     Active Substance: ENOXAPARIN
  1554. ENOXAPARIN [Concomitant]
     Active Substance: ENOXAPARIN
  1555. ENOXAPARIN [Concomitant]
     Active Substance: ENOXAPARIN
  1556. ENOXAPARIN [Concomitant]
     Active Substance: ENOXAPARIN
  1557. ENOXAPARIN [Concomitant]
     Active Substance: ENOXAPARIN
  1558. ENOXAPARIN [Concomitant]
     Active Substance: ENOXAPARIN
  1559. ENOXAPARIN [Concomitant]
     Active Substance: ENOXAPARIN
  1560. ENOXAPARIN [Concomitant]
     Active Substance: ENOXAPARIN
  1561. ENOXAPARIN [Concomitant]
     Active Substance: ENOXAPARIN
  1562. ENOXAPARIN [Concomitant]
     Active Substance: ENOXAPARIN
  1563. ENOXAPARIN [Concomitant]
     Active Substance: ENOXAPARIN
  1564. ENOXAPARIN [Concomitant]
     Active Substance: ENOXAPARIN
  1565. ENOXAPARIN [Concomitant]
     Active Substance: ENOXAPARIN
  1566. ENOXAPARIN [Concomitant]
     Active Substance: ENOXAPARIN
  1567. ENOXAPARIN [Concomitant]
     Active Substance: ENOXAPARIN
  1568. ENOXAPARIN [Concomitant]
     Active Substance: ENOXAPARIN
  1569. ENOXAPARIN [Concomitant]
     Active Substance: ENOXAPARIN
  1570. ENOXAPARIN [Concomitant]
     Active Substance: ENOXAPARIN
  1571. ENOXAPARIN [Concomitant]
     Active Substance: ENOXAPARIN
  1572. ENOXAPARIN [Concomitant]
     Active Substance: ENOXAPARIN
  1573. ENOXAPARIN [Concomitant]
     Active Substance: ENOXAPARIN
  1574. ENOXAPARIN [Concomitant]
     Active Substance: ENOXAPARIN
  1575. ENOXAPARIN [Concomitant]
     Active Substance: ENOXAPARIN
  1576. ENOXAPARIN [Concomitant]
     Active Substance: ENOXAPARIN
  1577. ENOXAPARIN [Concomitant]
     Active Substance: ENOXAPARIN
  1578. ENOXAPARIN [Concomitant]
     Active Substance: ENOXAPARIN
  1579. ENOXAPARIN [Concomitant]
     Active Substance: ENOXAPARIN
  1580. ENOXAPARIN [Concomitant]
     Active Substance: ENOXAPARIN
  1581. ENOXAPARIN [Concomitant]
     Active Substance: ENOXAPARIN
  1582. ENOXAPARIN [Concomitant]
     Active Substance: ENOXAPARIN
  1583. ENOXAPARIN [Concomitant]
     Active Substance: ENOXAPARIN
  1584. ENOXAPARIN [Concomitant]
     Active Substance: ENOXAPARIN
  1585. ENOXAPARIN [Concomitant]
     Active Substance: ENOXAPARIN
  1586. ENOXAPARIN [Concomitant]
     Active Substance: ENOXAPARIN
  1587. ENOXAPARIN [Concomitant]
     Active Substance: ENOXAPARIN
  1588. ENOXAPARIN [Concomitant]
     Active Substance: ENOXAPARIN
  1589. ENOXAPARIN [Concomitant]
     Active Substance: ENOXAPARIN
  1590. ENOXAPARIN [Concomitant]
     Active Substance: ENOXAPARIN
  1591. ENOXAPARIN [Concomitant]
     Active Substance: ENOXAPARIN
  1592. ENOXAPARIN [Concomitant]
     Active Substance: ENOXAPARIN
  1593. ENOXAPARIN [Concomitant]
     Active Substance: ENOXAPARIN
  1594. ENOXAPARIN [Concomitant]
     Active Substance: ENOXAPARIN
  1595. ENOXAPARIN [Concomitant]
     Active Substance: ENOXAPARIN
  1596. ENOXAPARIN [Concomitant]
     Active Substance: ENOXAPARIN
  1597. ENOXAPARIN [Concomitant]
     Active Substance: ENOXAPARIN
  1598. ENOXAPARIN [Concomitant]
     Active Substance: ENOXAPARIN
  1599. ENOXAPARIN [Concomitant]
     Active Substance: ENOXAPARIN
  1600. ENOXAPARIN [Concomitant]
     Active Substance: ENOXAPARIN
  1601. ENOXAPARIN [Concomitant]
     Active Substance: ENOXAPARIN
  1602. ENOXAPARIN [Concomitant]
     Active Substance: ENOXAPARIN
  1603. ENOXAPARIN [Concomitant]
     Active Substance: ENOXAPARIN
  1604. ENOXAPARIN [Concomitant]
     Active Substance: ENOXAPARIN
  1605. ENOXAPARIN [Concomitant]
     Active Substance: ENOXAPARIN
  1606. ENOXAPARIN [Concomitant]
     Active Substance: ENOXAPARIN
  1607. ENOXAPARIN [Concomitant]
     Active Substance: ENOXAPARIN
  1608. ENOXAPARIN [Concomitant]
     Active Substance: ENOXAPARIN
  1609. ENOXAPARIN [Concomitant]
     Active Substance: ENOXAPARIN
  1610. ENOXAPARIN [Concomitant]
     Active Substance: ENOXAPARIN
  1611. ENOXAPARIN [Concomitant]
     Active Substance: ENOXAPARIN
  1612. ENOXAPARIN [Concomitant]
     Active Substance: ENOXAPARIN
  1613. ENOXAPARIN [Concomitant]
     Active Substance: ENOXAPARIN
  1614. ENOXAPARIN [Concomitant]
     Active Substance: ENOXAPARIN
  1615. ENOXAPARIN [Concomitant]
     Active Substance: ENOXAPARIN
  1616. ENOXAPARIN [Concomitant]
     Active Substance: ENOXAPARIN
  1617. ENOXAPARIN [Concomitant]
     Active Substance: ENOXAPARIN
  1618. ENOXAPARIN [Concomitant]
     Active Substance: ENOXAPARIN
  1619. ENOXAPARIN [Concomitant]
     Active Substance: ENOXAPARIN
  1620. ENOXAPARIN [Concomitant]
     Active Substance: ENOXAPARIN
  1621. ENOXAPARIN [Concomitant]
     Active Substance: ENOXAPARIN
  1622. ENOXAPARIN [Concomitant]
     Active Substance: ENOXAPARIN
  1623. ENOXAPARIN [Concomitant]
     Active Substance: ENOXAPARIN
  1624. ENOXAPARIN [Concomitant]
     Active Substance: ENOXAPARIN
  1625. ENOXAPARIN [Concomitant]
     Active Substance: ENOXAPARIN
  1626. ENOXAPARIN [Concomitant]
     Active Substance: ENOXAPARIN
  1627. ENOXAPARIN [Concomitant]
     Active Substance: ENOXAPARIN
  1628. ENOXAPARIN [Concomitant]
     Active Substance: ENOXAPARIN
  1629. ENOXAPARIN [Concomitant]
     Active Substance: ENOXAPARIN
  1630. ENOXAPARIN [Concomitant]
     Active Substance: ENOXAPARIN
  1631. ENOXAPARIN [Concomitant]
     Active Substance: ENOXAPARIN
  1632. ENOXAPARIN [Concomitant]
     Active Substance: ENOXAPARIN
  1633. ENOXAPARIN [Concomitant]
     Active Substance: ENOXAPARIN
  1634. ENOXAPARIN [Concomitant]
     Active Substance: ENOXAPARIN
  1635. ENOXAPARIN [Concomitant]
     Active Substance: ENOXAPARIN
  1636. ENOXAPARIN [Concomitant]
     Active Substance: ENOXAPARIN
  1637. ENOXAPARIN [Concomitant]
     Active Substance: ENOXAPARIN
  1638. ENOXAPARIN [Concomitant]
     Active Substance: ENOXAPARIN
  1639. ENOXAPARIN [Concomitant]
     Active Substance: ENOXAPARIN
  1640. ENOXAPARIN [Concomitant]
     Active Substance: ENOXAPARIN
  1641. ENOXAPARIN [Concomitant]
     Active Substance: ENOXAPARIN
  1642. ENOXAPARIN [Concomitant]
     Active Substance: ENOXAPARIN
  1643. ENOXAPARIN [Concomitant]
     Active Substance: ENOXAPARIN
  1644. ENOXAPARIN [Concomitant]
     Active Substance: ENOXAPARIN
  1645. ENOXAPARIN [Concomitant]
     Active Substance: ENOXAPARIN
  1646. ENOXAPARIN [Concomitant]
     Active Substance: ENOXAPARIN
  1647. ENOXAPARIN [Concomitant]
     Active Substance: ENOXAPARIN
  1648. ENOXAPARIN [Concomitant]
     Active Substance: ENOXAPARIN
  1649. ENOXAPARIN [Concomitant]
     Active Substance: ENOXAPARIN
  1650. ENOXAPARIN [Concomitant]
     Active Substance: ENOXAPARIN
  1651. ENOXAPARIN [Concomitant]
     Active Substance: ENOXAPARIN
  1652. ENOXAPARIN [Concomitant]
     Active Substance: ENOXAPARIN
  1653. ENOXAPARIN [Concomitant]
     Active Substance: ENOXAPARIN
  1654. ENOXAPARIN [Concomitant]
     Active Substance: ENOXAPARIN
  1655. ENOXAPARIN [Concomitant]
     Active Substance: ENOXAPARIN
  1656. ENOXAPARIN [Concomitant]
     Active Substance: ENOXAPARIN
  1657. ENOXAPARIN [Concomitant]
     Active Substance: ENOXAPARIN
  1658. ENOXAPARIN [Concomitant]
     Active Substance: ENOXAPARIN
  1659. ENOXAPARIN [Concomitant]
     Active Substance: ENOXAPARIN
  1660. ENOXAPARIN [Concomitant]
     Active Substance: ENOXAPARIN
  1661. ENOXAPARIN [Concomitant]
     Active Substance: ENOXAPARIN
  1662. ENOXAPARIN [Concomitant]
     Active Substance: ENOXAPARIN
  1663. ENOXAPARIN [Concomitant]
     Active Substance: ENOXAPARIN
  1664. ENOXAPARIN [Concomitant]
     Active Substance: ENOXAPARIN
  1665. ENOXAPARIN [Concomitant]
     Active Substance: ENOXAPARIN
  1666. ENOXAPARIN [Concomitant]
     Active Substance: ENOXAPARIN
  1667. ENOXAPARIN [Concomitant]
     Active Substance: ENOXAPARIN
  1668. ENOXAPARIN [Concomitant]
     Active Substance: ENOXAPARIN
  1669. ENOXAPARIN [Concomitant]
     Active Substance: ENOXAPARIN
  1670. ENOXAPARIN [Concomitant]
     Active Substance: ENOXAPARIN
  1671. ENOXAPARIN [Concomitant]
     Active Substance: ENOXAPARIN
  1672. ENOXAPARIN [Concomitant]
     Active Substance: ENOXAPARIN
  1673. ENOXAPARIN [Concomitant]
     Active Substance: ENOXAPARIN
  1674. ENOXAPARIN [Concomitant]
     Active Substance: ENOXAPARIN
  1675. ENOXAPARIN [Concomitant]
     Active Substance: ENOXAPARIN
  1676. ENOXAPARIN [Concomitant]
     Active Substance: ENOXAPARIN
  1677. ENOXAPARIN [Concomitant]
     Active Substance: ENOXAPARIN
  1678. ENOXAPARIN [Concomitant]
     Active Substance: ENOXAPARIN
  1679. ENOXAPARIN [Concomitant]
     Active Substance: ENOXAPARIN
  1680. ENOXAPARIN [Concomitant]
     Active Substance: ENOXAPARIN
  1681. ENOXAPARIN [Concomitant]
     Active Substance: ENOXAPARIN
  1682. ENOXAPARIN [Concomitant]
     Active Substance: ENOXAPARIN
  1683. ENOXAPARIN [Concomitant]
     Active Substance: ENOXAPARIN
  1684. ENOXAPARIN [Concomitant]
     Active Substance: ENOXAPARIN
  1685. ENOXAPARIN [Concomitant]
     Active Substance: ENOXAPARIN
  1686. ENOXAPARIN [Concomitant]
     Active Substance: ENOXAPARIN
  1687. ENOXAPARIN [Concomitant]
     Active Substance: ENOXAPARIN
  1688. ENOXAPARIN [Concomitant]
     Active Substance: ENOXAPARIN
  1689. ENOXAPARIN [Concomitant]
     Active Substance: ENOXAPARIN
  1690. ENOXAPARIN [Concomitant]
     Active Substance: ENOXAPARIN
  1691. ENOXAPARIN [Concomitant]
     Active Substance: ENOXAPARIN
  1692. ENOXAPARIN [Concomitant]
     Active Substance: ENOXAPARIN
  1693. ENOXAPARIN [Concomitant]
     Active Substance: ENOXAPARIN
  1694. ENOXAPARIN [Concomitant]
     Active Substance: ENOXAPARIN
  1695. ENOXAPARIN [Concomitant]
     Active Substance: ENOXAPARIN
  1696. ENOXAPARIN [Concomitant]
     Active Substance: ENOXAPARIN
  1697. ENOXAPARIN [Concomitant]
     Active Substance: ENOXAPARIN
  1698. ENOXAPARIN [Concomitant]
     Active Substance: ENOXAPARIN
  1699. ENOXAPARIN [Concomitant]
     Active Substance: ENOXAPARIN
  1700. ENOXAPARIN [Concomitant]
     Active Substance: ENOXAPARIN
  1701. ENOXAPARIN [Concomitant]
     Active Substance: ENOXAPARIN
  1702. ENOXAPARIN [Concomitant]
     Active Substance: ENOXAPARIN
  1703. ENOXAPARIN [Concomitant]
     Active Substance: ENOXAPARIN
  1704. ENOXAPARIN [Concomitant]
     Active Substance: ENOXAPARIN
  1705. ENOXAPARIN [Concomitant]
     Active Substance: ENOXAPARIN
  1706. ENOXAPARIN [Concomitant]
     Active Substance: ENOXAPARIN
  1707. ENOXAPARIN [Concomitant]
     Active Substance: ENOXAPARIN
  1708. ENOXAPARIN [Concomitant]
     Active Substance: ENOXAPARIN
  1709. ENOXAPARIN [Concomitant]
     Active Substance: ENOXAPARIN
  1710. ENOXAPARIN [Concomitant]
     Active Substance: ENOXAPARIN
  1711. ENOXAPARIN [Concomitant]
     Active Substance: ENOXAPARIN
  1712. ENOXAPARIN [Concomitant]
     Active Substance: ENOXAPARIN
  1713. ENOXAPARIN [Concomitant]
     Active Substance: ENOXAPARIN
  1714. ENOXAPARIN [Concomitant]
     Active Substance: ENOXAPARIN
  1715. ENOXAPARIN [Concomitant]
     Active Substance: ENOXAPARIN
  1716. ENOXAPARIN [Concomitant]
     Active Substance: ENOXAPARIN
  1717. ENOXAPARIN [Concomitant]
     Active Substance: ENOXAPARIN
  1718. ENOXAPARIN [Concomitant]
     Active Substance: ENOXAPARIN
  1719. ENOXAPARIN [Concomitant]
     Active Substance: ENOXAPARIN
  1720. ENOXAPARIN [Concomitant]
     Active Substance: ENOXAPARIN
  1721. ENOXAPARIN [Concomitant]
     Active Substance: ENOXAPARIN
  1722. ENOXAPARIN [Concomitant]
     Active Substance: ENOXAPARIN
  1723. ENOXAPARIN [Concomitant]
     Active Substance: ENOXAPARIN
  1724. ENOXAPARIN [Concomitant]
     Active Substance: ENOXAPARIN
  1725. OMALIZUMAB [Suspect]
     Active Substance: OMALIZUMAB
     Indication: Chronic spontaneous urticaria
  1726. OMALIZUMAB [Suspect]
     Active Substance: OMALIZUMAB
  1727. OMALIZUMAB [Suspect]
     Active Substance: OMALIZUMAB
  1728. OMALIZUMAB [Suspect]
     Active Substance: OMALIZUMAB
  1729. OMALIZUMAB [Suspect]
     Active Substance: OMALIZUMAB
  1730. OMALIZUMAB [Suspect]
     Active Substance: OMALIZUMAB
  1731. OMALIZUMAB [Suspect]
     Active Substance: OMALIZUMAB
  1732. OMALIZUMAB [Suspect]
     Active Substance: OMALIZUMAB
  1733. OMALIZUMAB [Suspect]
     Active Substance: OMALIZUMAB
  1734. OMALIZUMAB [Suspect]
     Active Substance: OMALIZUMAB
  1735. OMALIZUMAB [Suspect]
     Active Substance: OMALIZUMAB
  1736. OMALIZUMAB [Suspect]
     Active Substance: OMALIZUMAB
  1737. OMALIZUMAB [Suspect]
     Active Substance: OMALIZUMAB
  1738. OMALIZUMAB [Suspect]
     Active Substance: OMALIZUMAB
  1739. OMALIZUMAB [Suspect]
     Active Substance: OMALIZUMAB
  1740. OMALIZUMAB [Suspect]
     Active Substance: OMALIZUMAB
  1741. OMALIZUMAB [Suspect]
     Active Substance: OMALIZUMAB
  1742. OMALIZUMAB [Suspect]
     Active Substance: OMALIZUMAB
  1743. OMALIZUMAB [Suspect]
     Active Substance: OMALIZUMAB
  1744. OMALIZUMAB [Suspect]
     Active Substance: OMALIZUMAB
  1745. OMALIZUMAB [Suspect]
     Active Substance: OMALIZUMAB
  1746. OMALIZUMAB [Suspect]
     Active Substance: OMALIZUMAB
  1747. OMALIZUMAB [Suspect]
     Active Substance: OMALIZUMAB
  1748. OMALIZUMAB [Suspect]
     Active Substance: OMALIZUMAB
  1749. OMALIZUMAB [Suspect]
     Active Substance: OMALIZUMAB
  1750. OMALIZUMAB [Suspect]
     Active Substance: OMALIZUMAB
  1751. OMALIZUMAB [Suspect]
     Active Substance: OMALIZUMAB
  1752. OMALIZUMAB [Suspect]
     Active Substance: OMALIZUMAB
  1753. OMALIZUMAB [Suspect]
     Active Substance: OMALIZUMAB
  1754. OMALIZUMAB [Suspect]
     Active Substance: OMALIZUMAB
  1755. OMALIZUMAB [Suspect]
     Active Substance: OMALIZUMAB
  1756. OMALIZUMAB [Suspect]
     Active Substance: OMALIZUMAB
  1757. OMALIZUMAB [Suspect]
     Active Substance: OMALIZUMAB
  1758. OMALIZUMAB [Suspect]
     Active Substance: OMALIZUMAB
  1759. CYCLOSPORINE [Suspect]
     Active Substance: CYCLOSPORINE
     Indication: Product used for unknown indication
  1760. CYCLOSPORINE [Suspect]
     Active Substance: CYCLOSPORINE
  1761. CYCLOSPORINE [Suspect]
     Active Substance: CYCLOSPORINE
  1762. CYCLOSPORINE [Suspect]
     Active Substance: CYCLOSPORINE
  1763. CYCLOSPORINE [Suspect]
     Active Substance: CYCLOSPORINE
  1764. CYCLOSPORINE [Suspect]
     Active Substance: CYCLOSPORINE
  1765. CYCLOSPORINE [Suspect]
     Active Substance: CYCLOSPORINE
  1766. CYCLOSPORINE [Suspect]
     Active Substance: CYCLOSPORINE
  1767. CYCLOSPORINE [Suspect]
     Active Substance: CYCLOSPORINE
  1768. CYCLOSPORINE [Suspect]
     Active Substance: CYCLOSPORINE
  1769. CYCLOSPORINE [Suspect]
     Active Substance: CYCLOSPORINE
  1770. CYCLOSPORINE [Suspect]
     Active Substance: CYCLOSPORINE
  1771. CYCLOSPORINE [Suspect]
     Active Substance: CYCLOSPORINE
  1772. CYCLOSPORINE [Suspect]
     Active Substance: CYCLOSPORINE
  1773. CYCLOSPORINE [Suspect]
     Active Substance: CYCLOSPORINE
  1774. CYCLOSPORINE [Suspect]
     Active Substance: CYCLOSPORINE
  1775. CYCLOSPORINE [Suspect]
     Active Substance: CYCLOSPORINE
  1776. CYCLOSPORINE [Suspect]
     Active Substance: CYCLOSPORINE
  1777. CYCLOSPORINE [Suspect]
     Active Substance: CYCLOSPORINE
  1778. CYCLOSPORINE [Suspect]
     Active Substance: CYCLOSPORINE
  1779. CYCLOSPORINE [Suspect]
     Active Substance: CYCLOSPORINE
  1780. CYCLOSPORINE [Suspect]
     Active Substance: CYCLOSPORINE
  1781. CYCLOSPORINE [Suspect]
     Active Substance: CYCLOSPORINE
  1782. CYCLOSPORINE [Suspect]
     Active Substance: CYCLOSPORINE
  1783. CYCLOSPORINE [Suspect]
     Active Substance: CYCLOSPORINE
  1784. CYCLOSPORINE [Suspect]
     Active Substance: CYCLOSPORINE
  1785. CYCLOSPORINE [Suspect]
     Active Substance: CYCLOSPORINE
  1786. CYCLOSPORINE [Suspect]
     Active Substance: CYCLOSPORINE
  1787. CYCLOSPORINE [Suspect]
     Active Substance: CYCLOSPORINE
  1788. CYCLOSPORINE [Suspect]
     Active Substance: CYCLOSPORINE
  1789. CYCLOSPORINE [Suspect]
     Active Substance: CYCLOSPORINE
  1790. CYCLOSPORINE [Suspect]
     Active Substance: CYCLOSPORINE
  1791. CYCLOSPORINE [Suspect]
     Active Substance: CYCLOSPORINE
  1792. CYCLOSPORINE [Suspect]
     Active Substance: CYCLOSPORINE
  1793. CYCLOSPORINE [Suspect]
     Active Substance: CYCLOSPORINE
  1794. CYCLOSPORINE [Suspect]
     Active Substance: CYCLOSPORINE
  1795. CYCLOSPORINE [Suspect]
     Active Substance: CYCLOSPORINE
  1796. CYCLOSPORINE [Suspect]
     Active Substance: CYCLOSPORINE
  1797. CYCLOSPORINE [Suspect]
     Active Substance: CYCLOSPORINE
  1798. CYCLOSPORINE [Suspect]
     Active Substance: CYCLOSPORINE
  1799. CYCLOSPORINE [Suspect]
     Active Substance: CYCLOSPORINE
  1800. CYCLOSPORINE [Suspect]
     Active Substance: CYCLOSPORINE
  1801. CYCLOSPORINE [Suspect]
     Active Substance: CYCLOSPORINE
  1802. CYCLOSPORINE [Suspect]
     Active Substance: CYCLOSPORINE
  1803. CYCLOSPORINE [Suspect]
     Active Substance: CYCLOSPORINE
  1804. CYCLOSPORINE [Suspect]
     Active Substance: CYCLOSPORINE
  1805. CYCLOSPORINE [Suspect]
     Active Substance: CYCLOSPORINE
  1806. CYCLOSPORINE [Suspect]
     Active Substance: CYCLOSPORINE
  1807. CYCLOSPORINE [Suspect]
     Active Substance: CYCLOSPORINE
  1808. CYCLOSPORINE [Suspect]
     Active Substance: CYCLOSPORINE
  1809. MYCOPHENOLATE MOFETIL [Suspect]
     Active Substance: MYCOPHENOLATE MOFETIL
     Indication: Product used for unknown indication
  1810. MYCOPHENOLATE MOFETIL [Suspect]
     Active Substance: MYCOPHENOLATE MOFETIL
  1811. MYCOPHENOLATE MOFETIL [Suspect]
     Active Substance: MYCOPHENOLATE MOFETIL
  1812. MYCOPHENOLATE MOFETIL [Suspect]
     Active Substance: MYCOPHENOLATE MOFETIL
  1813. MYCOPHENOLATE MOFETIL [Suspect]
     Active Substance: MYCOPHENOLATE MOFETIL
  1814. MYCOPHENOLATE MOFETIL [Suspect]
     Active Substance: MYCOPHENOLATE MOFETIL
  1815. MYCOPHENOLATE MOFETIL [Suspect]
     Active Substance: MYCOPHENOLATE MOFETIL
  1816. MYCOPHENOLATE MOFETIL [Suspect]
     Active Substance: MYCOPHENOLATE MOFETIL
  1817. MYCOPHENOLATE MOFETIL [Suspect]
     Active Substance: MYCOPHENOLATE MOFETIL
  1818. MYCOPHENOLATE MOFETIL [Suspect]
     Active Substance: MYCOPHENOLATE MOFETIL
  1819. MYCOPHENOLATE MOFETIL [Suspect]
     Active Substance: MYCOPHENOLATE MOFETIL
     Route: 065
  1820. MYCOPHENOLATE MOFETIL [Suspect]
     Active Substance: MYCOPHENOLATE MOFETIL
     Route: 065
  1821. MYCOPHENOLATE MOFETIL [Suspect]
     Active Substance: MYCOPHENOLATE MOFETIL
     Route: 065
  1822. MYCOPHENOLATE MOFETIL [Suspect]
     Active Substance: MYCOPHENOLATE MOFETIL
     Route: 065
  1823. MYCOPHENOLATE MOFETIL [Suspect]
     Active Substance: MYCOPHENOLATE MOFETIL
     Route: 065
  1824. MYCOPHENOLATE MOFETIL [Suspect]
     Active Substance: MYCOPHENOLATE MOFETIL
     Route: 065
  1825. MYCOPHENOLATE MOFETIL [Suspect]
     Active Substance: MYCOPHENOLATE MOFETIL
     Route: 065
  1826. RITUXIMAB [Suspect]
     Active Substance: RITUXIMAB
     Indication: Product used for unknown indication
  1827. RITUXIMAB [Suspect]
     Active Substance: RITUXIMAB
  1828. RITUXIMAB [Suspect]
     Active Substance: RITUXIMAB
  1829. RITUXIMAB [Suspect]
     Active Substance: RITUXIMAB
  1830. RITUXIMAB [Suspect]
     Active Substance: RITUXIMAB
  1831. RITUXIMAB [Suspect]
     Active Substance: RITUXIMAB
  1832. RITUXIMAB [Suspect]
     Active Substance: RITUXIMAB
  1833. RITUXIMAB [Suspect]
     Active Substance: RITUXIMAB
  1834. RITUXIMAB [Suspect]
     Active Substance: RITUXIMAB
  1835. RITUXIMAB [Suspect]
     Active Substance: RITUXIMAB
  1836. RITUXIMAB [Suspect]
     Active Substance: RITUXIMAB
  1837. RITUXIMAB [Suspect]
     Active Substance: RITUXIMAB
  1838. RITUXIMAB [Suspect]
     Active Substance: RITUXIMAB
  1839. RITUXIMAB [Suspect]
     Active Substance: RITUXIMAB
  1840. RITUXIMAB [Suspect]
     Active Substance: RITUXIMAB
  1841. RITUXIMAB [Suspect]
     Active Substance: RITUXIMAB
  1842. RITUXIMAB [Suspect]
     Active Substance: RITUXIMAB
  1843. RITUXIMAB [Suspect]
     Active Substance: RITUXIMAB
  1844. RITUXIMAB [Suspect]
     Active Substance: RITUXIMAB
  1845. RITUXIMAB [Suspect]
     Active Substance: RITUXIMAB
  1846. RITUXIMAB [Suspect]
     Active Substance: RITUXIMAB
  1847. RITUXIMAB [Suspect]
     Active Substance: RITUXIMAB
  1848. RITUXIMAB [Suspect]
     Active Substance: RITUXIMAB
  1849. RITUXIMAB [Suspect]
     Active Substance: RITUXIMAB
  1850. RITUXIMAB [Suspect]
     Active Substance: RITUXIMAB
  1851. RITUXIMAB [Suspect]
     Active Substance: RITUXIMAB
  1852. RITUXIMAB [Suspect]
     Active Substance: RITUXIMAB
  1853. RITUXIMAB [Suspect]
     Active Substance: RITUXIMAB
  1854. RITUXIMAB [Suspect]
     Active Substance: RITUXIMAB
  1855. RITUXIMAB [Suspect]
     Active Substance: RITUXIMAB
  1856. RITUXIMAB [Suspect]
     Active Substance: RITUXIMAB
  1857. RITUXIMAB [Suspect]
     Active Substance: RITUXIMAB
  1858. RITUXIMAB [Suspect]
     Active Substance: RITUXIMAB
  1859. RITUXIMAB [Suspect]
     Active Substance: RITUXIMAB
  1860. RITUXIMAB [Suspect]
     Active Substance: RITUXIMAB
  1861. RITUXIMAB [Suspect]
     Active Substance: RITUXIMAB
  1862. RITUXIMAB [Suspect]
     Active Substance: RITUXIMAB
  1863. RITUXIMAB [Suspect]
     Active Substance: RITUXIMAB
  1864. RITUXIMAB [Suspect]
     Active Substance: RITUXIMAB
  1865. RITUXIMAB [Suspect]
     Active Substance: RITUXIMAB
  1866. RITUXIMAB [Suspect]
     Active Substance: RITUXIMAB
  1867. RITUXIMAB [Suspect]
     Active Substance: RITUXIMAB
  1868. RITUXIMAB [Suspect]
     Active Substance: RITUXIMAB
  1869. RITUXIMAB [Suspect]
     Active Substance: RITUXIMAB
  1870. RITUXIMAB [Suspect]
     Active Substance: RITUXIMAB
  1871. RITUXIMAB [Suspect]
     Active Substance: RITUXIMAB
  1872. RITUXIMAB [Suspect]
     Active Substance: RITUXIMAB
  1873. RITUXIMAB [Suspect]
     Active Substance: RITUXIMAB
  1874. RITUXIMAB [Suspect]
     Active Substance: RITUXIMAB
  1875. RITUXIMAB [Suspect]
     Active Substance: RITUXIMAB
  1876. OMALIZUMAB [Suspect]
     Active Substance: OMALIZUMAB
     Indication: Chronic spontaneous urticaria
     Route: 065
  1877. OMALIZUMAB [Suspect]
     Active Substance: OMALIZUMAB
     Route: 065
  1878. OMALIZUMAB [Suspect]
     Active Substance: OMALIZUMAB
     Route: 065
  1879. OMALIZUMAB [Suspect]
     Active Substance: OMALIZUMAB
     Route: 065
  1880. OMALIZUMAB [Suspect]
     Active Substance: OMALIZUMAB
     Route: 065
  1881. OMALIZUMAB [Suspect]
     Active Substance: OMALIZUMAB
     Route: 065
  1882. OMALIZUMAB [Suspect]
     Active Substance: OMALIZUMAB
     Route: 065
  1883. OMALIZUMAB [Suspect]
     Active Substance: OMALIZUMAB
     Route: 065
  1884. OMALIZUMAB [Suspect]
     Active Substance: OMALIZUMAB
     Route: 065
  1885. OMALIZUMAB [Suspect]
     Active Substance: OMALIZUMAB
     Route: 065
  1886. OMALIZUMAB [Suspect]
     Active Substance: OMALIZUMAB
  1887. OMALIZUMAB [Suspect]
     Active Substance: OMALIZUMAB
     Route: 065
  1888. OMALIZUMAB [Suspect]
     Active Substance: OMALIZUMAB
     Route: 065
  1889. OMALIZUMAB [Suspect]
     Active Substance: OMALIZUMAB
     Route: 065
  1890. OMALIZUMAB [Suspect]
     Active Substance: OMALIZUMAB
     Route: 065
  1891. OMALIZUMAB [Suspect]
     Active Substance: OMALIZUMAB
     Route: 065
  1892. OMALIZUMAB [Suspect]
     Active Substance: OMALIZUMAB
     Route: 065
  1893. OMALIZUMAB [Suspect]
     Active Substance: OMALIZUMAB
     Route: 065
  1894. OMALIZUMAB [Suspect]
     Active Substance: OMALIZUMAB
     Route: 065
  1895. OMALIZUMAB [Suspect]
     Active Substance: OMALIZUMAB
     Route: 065
  1896. OMALIZUMAB [Suspect]
     Active Substance: OMALIZUMAB
     Route: 065
  1897. OMALIZUMAB [Suspect]
     Active Substance: OMALIZUMAB
     Route: 065
  1898. OMALIZUMAB [Suspect]
     Active Substance: OMALIZUMAB
     Route: 065
  1899. OMALIZUMAB [Suspect]
     Active Substance: OMALIZUMAB
     Route: 065
  1900. OMALIZUMAB [Suspect]
     Active Substance: OMALIZUMAB
     Route: 065
  1901. OMALIZUMAB [Suspect]
     Active Substance: OMALIZUMAB
     Route: 065
  1902. OMALIZUMAB [Suspect]
     Active Substance: OMALIZUMAB
     Route: 065
  1903. OMALIZUMAB [Suspect]
     Active Substance: OMALIZUMAB
     Route: 065
  1904. OMALIZUMAB [Suspect]
     Active Substance: OMALIZUMAB
     Route: 065
  1905. OMALIZUMAB [Suspect]
     Active Substance: OMALIZUMAB
     Route: 065
  1906. OMALIZUMAB [Suspect]
     Active Substance: OMALIZUMAB
     Route: 065
  1907. OMALIZUMAB [Suspect]
     Active Substance: OMALIZUMAB
     Route: 065
  1908. OMALIZUMAB [Suspect]
     Active Substance: OMALIZUMAB
     Route: 065
  1909. OMALIZUMAB [Suspect]
     Active Substance: OMALIZUMAB
     Route: 065
  1910. OMALIZUMAB [Suspect]
     Active Substance: OMALIZUMAB
     Route: 065
  1911. CYCLOSPORINE [Suspect]
     Active Substance: CYCLOSPORINE
     Indication: Product used for unknown indication
     Route: 065
  1912. CYCLOSPORINE [Suspect]
     Active Substance: CYCLOSPORINE
     Route: 065
  1913. CYCLOSPORINE [Suspect]
     Active Substance: CYCLOSPORINE
     Route: 065
  1914. CYCLOSPORINE [Suspect]
     Active Substance: CYCLOSPORINE
     Route: 065
  1915. CYCLOSPORINE [Suspect]
     Active Substance: CYCLOSPORINE
     Route: 065
  1916. CYCLOSPORINE [Suspect]
     Active Substance: CYCLOSPORINE
  1917. CYCLOSPORINE [Suspect]
     Active Substance: CYCLOSPORINE
     Route: 065
  1918. CYCLOSPORINE [Suspect]
     Active Substance: CYCLOSPORINE
     Route: 065
  1919. CYCLOSPORINE [Suspect]
     Active Substance: CYCLOSPORINE
     Route: 065
  1920. CYCLOSPORINE [Suspect]
     Active Substance: CYCLOSPORINE
     Route: 065
  1921. CYCLOSPORINE [Suspect]
     Active Substance: CYCLOSPORINE
     Route: 065
  1922. CYCLOSPORINE [Suspect]
     Active Substance: CYCLOSPORINE
     Route: 065
  1923. CYCLOSPORINE [Suspect]
     Active Substance: CYCLOSPORINE
     Route: 065
  1924. CYCLOSPORINE [Suspect]
     Active Substance: CYCLOSPORINE
     Route: 065
  1925. CYCLOSPORINE [Suspect]
     Active Substance: CYCLOSPORINE
     Route: 065
  1926. CYCLOSPORINE [Suspect]
     Active Substance: CYCLOSPORINE
     Route: 065
  1927. CYCLOSPORINE [Suspect]
     Active Substance: CYCLOSPORINE
     Route: 065
  1928. CYCLOSPORINE [Suspect]
     Active Substance: CYCLOSPORINE
     Route: 065
  1929. CYCLOSPORINE [Suspect]
     Active Substance: CYCLOSPORINE
     Route: 065
  1930. CYCLOSPORINE [Suspect]
     Active Substance: CYCLOSPORINE
     Route: 065
  1931. CYCLOSPORINE [Suspect]
     Active Substance: CYCLOSPORINE
     Route: 065
  1932. CYCLOSPORINE [Suspect]
     Active Substance: CYCLOSPORINE
     Route: 065
  1933. CYCLOSPORINE [Suspect]
     Active Substance: CYCLOSPORINE
     Route: 065
  1934. CYCLOSPORINE [Suspect]
     Active Substance: CYCLOSPORINE
     Route: 065
  1935. CYCLOSPORINE [Suspect]
     Active Substance: CYCLOSPORINE
     Route: 065
  1936. CYCLOSPORINE [Suspect]
     Active Substance: CYCLOSPORINE
     Route: 065
  1937. CYCLOSPORINE [Suspect]
     Active Substance: CYCLOSPORINE
     Route: 065
  1938. CYCLOSPORINE [Suspect]
     Active Substance: CYCLOSPORINE
     Route: 065
  1939. CYCLOSPORINE [Suspect]
     Active Substance: CYCLOSPORINE
     Route: 065
  1940. CYCLOSPORINE [Suspect]
     Active Substance: CYCLOSPORINE
     Route: 065
  1941. CYCLOSPORINE [Suspect]
     Active Substance: CYCLOSPORINE
     Route: 065
  1942. CYCLOSPORINE [Suspect]
     Active Substance: CYCLOSPORINE
     Route: 065
  1943. CYCLOSPORINE [Suspect]
     Active Substance: CYCLOSPORINE
     Route: 065
  1944. CYCLOSPORINE [Suspect]
     Active Substance: CYCLOSPORINE
     Route: 065
  1945. CYCLOSPORINE [Suspect]
     Active Substance: CYCLOSPORINE
     Route: 065
  1946. CYCLOSPORINE [Suspect]
     Active Substance: CYCLOSPORINE
     Route: 065
  1947. CYCLOSPORINE [Suspect]
     Active Substance: CYCLOSPORINE
     Route: 065
  1948. CYCLOSPORINE [Suspect]
     Active Substance: CYCLOSPORINE
     Route: 065
  1949. CYCLOSPORINE [Suspect]
     Active Substance: CYCLOSPORINE
     Route: 065
  1950. CYCLOSPORINE [Suspect]
     Active Substance: CYCLOSPORINE
     Route: 065
  1951. CYCLOSPORINE [Suspect]
     Active Substance: CYCLOSPORINE
     Route: 065
  1952. CYCLOSPORINE [Suspect]
     Active Substance: CYCLOSPORINE
     Route: 065
  1953. CYCLOSPORINE [Suspect]
     Active Substance: CYCLOSPORINE
     Route: 065
  1954. CYCLOSPORINE [Suspect]
     Active Substance: CYCLOSPORINE
     Route: 065
  1955. CYCLOSPORINE [Suspect]
     Active Substance: CYCLOSPORINE
     Route: 065
  1956. CYCLOSPORINE [Suspect]
     Active Substance: CYCLOSPORINE
     Route: 065
  1957. CYCLOSPORINE [Suspect]
     Active Substance: CYCLOSPORINE
     Route: 065
  1958. CYCLOSPORINE [Suspect]
     Active Substance: CYCLOSPORINE
     Route: 065
  1959. CYCLOSPORINE [Suspect]
     Active Substance: CYCLOSPORINE
     Route: 065
  1960. CYCLOSPORINE [Suspect]
     Active Substance: CYCLOSPORINE
     Route: 065
  1961. MYCOPHENOLATE MOFETIL [Suspect]
     Active Substance: MYCOPHENOLATE MOFETIL
     Indication: Product used for unknown indication
     Route: 065
  1962. MYCOPHENOLATE MOFETIL [Suspect]
     Active Substance: MYCOPHENOLATE MOFETIL
     Route: 065
  1963. MYCOPHENOLATE MOFETIL [Suspect]
     Active Substance: MYCOPHENOLATE MOFETIL
     Route: 065
  1964. MYCOPHENOLATE MOFETIL [Suspect]
     Active Substance: MYCOPHENOLATE MOFETIL
     Route: 065
  1965. MYCOPHENOLATE MOFETIL [Suspect]
     Active Substance: MYCOPHENOLATE MOFETIL
     Route: 065
  1966. MYCOPHENOLATE MOFETIL [Suspect]
     Active Substance: MYCOPHENOLATE MOFETIL
  1967. MYCOPHENOLATE MOFETIL [Suspect]
     Active Substance: MYCOPHENOLATE MOFETIL
     Route: 065
  1968. MYCOPHENOLATE MOFETIL [Suspect]
     Active Substance: MYCOPHENOLATE MOFETIL
     Route: 065
  1969. MYCOPHENOLATE MOFETIL [Suspect]
     Active Substance: MYCOPHENOLATE MOFETIL
     Route: 065
  1970. MYCOPHENOLATE MOFETIL [Suspect]
     Active Substance: MYCOPHENOLATE MOFETIL
     Route: 065
  1971. RITUXIMAB [Suspect]
     Active Substance: RITUXIMAB
     Indication: Product used for unknown indication
  1972. RITUXIMAB [Suspect]
     Active Substance: RITUXIMAB
     Route: 065
  1973. RITUXIMAB [Suspect]
     Active Substance: RITUXIMAB
     Route: 065
  1974. RITUXIMAB [Suspect]
     Active Substance: RITUXIMAB
     Route: 065
  1975. RITUXIMAB [Suspect]
     Active Substance: RITUXIMAB
     Route: 065
  1976. RITUXIMAB [Suspect]
     Active Substance: RITUXIMAB
     Route: 065
  1977. RITUXIMAB [Suspect]
     Active Substance: RITUXIMAB
     Route: 065
  1978. RITUXIMAB [Suspect]
     Active Substance: RITUXIMAB
     Route: 065
  1979. RITUXIMAB [Suspect]
     Active Substance: RITUXIMAB
     Route: 065
  1980. RITUXIMAB [Suspect]
     Active Substance: RITUXIMAB
     Route: 065
  1981. RITUXIMAB [Suspect]
     Active Substance: RITUXIMAB
     Route: 065
  1982. RITUXIMAB [Suspect]
     Active Substance: RITUXIMAB
     Route: 065
  1983. RITUXIMAB [Suspect]
     Active Substance: RITUXIMAB
     Route: 065
  1984. RITUXIMAB [Suspect]
     Active Substance: RITUXIMAB
     Route: 065
  1985. RITUXIMAB [Suspect]
     Active Substance: RITUXIMAB
     Route: 065
  1986. RITUXIMAB [Suspect]
     Active Substance: RITUXIMAB
     Route: 065
  1987. RITUXIMAB [Suspect]
     Active Substance: RITUXIMAB
     Route: 065
  1988. RITUXIMAB [Suspect]
     Active Substance: RITUXIMAB
     Route: 065
  1989. RITUXIMAB [Suspect]
     Active Substance: RITUXIMAB
     Route: 065
  1990. RITUXIMAB [Suspect]
     Active Substance: RITUXIMAB
     Route: 065
  1991. RITUXIMAB [Suspect]
     Active Substance: RITUXIMAB
     Route: 065
  1992. RITUXIMAB [Suspect]
     Active Substance: RITUXIMAB
     Route: 065
  1993. RITUXIMAB [Suspect]
     Active Substance: RITUXIMAB
     Route: 065
  1994. RITUXIMAB [Suspect]
     Active Substance: RITUXIMAB
     Route: 065
  1995. RITUXIMAB [Suspect]
     Active Substance: RITUXIMAB
     Route: 065
  1996. RITUXIMAB [Suspect]
     Active Substance: RITUXIMAB
     Route: 065
  1997. RITUXIMAB [Suspect]
     Active Substance: RITUXIMAB
  1998. RITUXIMAB [Suspect]
     Active Substance: RITUXIMAB
     Route: 065
  1999. RITUXIMAB [Suspect]
     Active Substance: RITUXIMAB
     Route: 065
  2000. RITUXIMAB [Suspect]
     Active Substance: RITUXIMAB
     Route: 065
  2001. RITUXIMAB [Suspect]
     Active Substance: RITUXIMAB
     Route: 065
  2002. RITUXIMAB [Suspect]
     Active Substance: RITUXIMAB
     Route: 065
  2003. RITUXIMAB [Suspect]
     Active Substance: RITUXIMAB
     Route: 065
  2004. RITUXIMAB [Suspect]
     Active Substance: RITUXIMAB
     Route: 065
  2005. RITUXIMAB [Suspect]
     Active Substance: RITUXIMAB
     Route: 065
  2006. RITUXIMAB [Suspect]
     Active Substance: RITUXIMAB
     Route: 065
  2007. RITUXIMAB [Suspect]
     Active Substance: RITUXIMAB
     Route: 065
  2008. RITUXIMAB [Suspect]
     Active Substance: RITUXIMAB
     Route: 065
  2009. RITUXIMAB [Suspect]
     Active Substance: RITUXIMAB
     Route: 065
  2010. RITUXIMAB [Suspect]
     Active Substance: RITUXIMAB
     Route: 065
  2011. RITUXIMAB [Suspect]
     Active Substance: RITUXIMAB
     Route: 065
  2012. RITUXIMAB [Suspect]
     Active Substance: RITUXIMAB
     Route: 065
  2013. RITUXIMAB [Suspect]
     Active Substance: RITUXIMAB
     Route: 065
  2014. RITUXIMAB [Suspect]
     Active Substance: RITUXIMAB
     Route: 065
  2015. RITUXIMAB [Suspect]
     Active Substance: RITUXIMAB
     Route: 065
  2016. RITUXIMAB [Suspect]
     Active Substance: RITUXIMAB
     Route: 065
  2017. RITUXIMAB [Suspect]
     Active Substance: RITUXIMAB
     Route: 065
  2018. RITUXIMAB [Suspect]
     Active Substance: RITUXIMAB
     Route: 065
  2019. RITUXIMAB [Suspect]
     Active Substance: RITUXIMAB
     Route: 065
  2020. RITUXIMAB [Suspect]
     Active Substance: RITUXIMAB
     Route: 065
  2021. RITUXIMAB [Suspect]
     Active Substance: RITUXIMAB
     Indication: Product used for unknown indication
     Route: 065
  2022. RITUXIMAB [Suspect]
     Active Substance: RITUXIMAB
     Route: 065
  2023. RITUXIMAB [Suspect]
     Active Substance: RITUXIMAB
     Route: 065
  2024. RITUXIMAB [Suspect]
     Active Substance: RITUXIMAB
     Route: 065
  2025. RITUXIMAB [Suspect]
     Active Substance: RITUXIMAB
     Route: 065
  2026. RITUXIMAB [Suspect]
     Active Substance: RITUXIMAB
     Route: 065
  2027. RITUXIMAB [Suspect]
     Active Substance: RITUXIMAB
     Route: 065
  2028. RITUXIMAB [Suspect]
     Active Substance: RITUXIMAB
     Route: 065
  2029. RITUXIMAB [Suspect]
     Active Substance: RITUXIMAB
     Route: 065
  2030. RITUXIMAB [Suspect]
     Active Substance: RITUXIMAB
     Route: 065
  2031. RITUXIMAB [Suspect]
     Active Substance: RITUXIMAB
     Route: 065
  2032. RITUXIMAB [Suspect]
     Active Substance: RITUXIMAB
     Route: 065
  2033. RITUXIMAB [Suspect]
     Active Substance: RITUXIMAB
     Route: 065
  2034. RITUXIMAB [Suspect]
     Active Substance: RITUXIMAB
     Route: 065
  2035. RITUXIMAB [Suspect]
     Active Substance: RITUXIMAB
     Route: 065
  2036. RITUXIMAB [Suspect]
     Active Substance: RITUXIMAB
     Route: 065
  2037. RITUXIMAB [Suspect]
     Active Substance: RITUXIMAB
     Route: 065
  2038. RITUXIMAB [Suspect]
     Active Substance: RITUXIMAB
     Route: 065
  2039. RITUXIMAB [Suspect]
     Active Substance: RITUXIMAB
     Route: 065
  2040. RITUXIMAB [Suspect]
     Active Substance: RITUXIMAB
     Route: 065
  2041. RITUXIMAB [Suspect]
     Active Substance: RITUXIMAB
     Route: 065
  2042. RITUXIMAB [Suspect]
     Active Substance: RITUXIMAB
     Route: 065
  2043. RITUXIMAB [Suspect]
     Active Substance: RITUXIMAB
     Route: 065
  2044. RITUXIMAB [Suspect]
     Active Substance: RITUXIMAB
     Route: 065
  2045. RITUXIMAB [Suspect]
     Active Substance: RITUXIMAB
     Route: 065
  2046. RITUXIMAB [Suspect]
     Active Substance: RITUXIMAB
     Route: 065
  2047. RITUXIMAB [Suspect]
     Active Substance: RITUXIMAB
     Route: 065
  2048. RITUXIMAB [Suspect]
     Active Substance: RITUXIMAB
     Route: 065
  2049. RITUXIMAB [Suspect]
     Active Substance: RITUXIMAB
     Route: 065
  2050. RITUXIMAB [Suspect]
     Active Substance: RITUXIMAB
     Route: 065
  2051. RITUXIMAB [Suspect]
     Active Substance: RITUXIMAB
     Route: 065
  2052. RITUXIMAB [Suspect]
     Active Substance: RITUXIMAB
     Route: 065
  2053. RITUXIMAB [Suspect]
     Active Substance: RITUXIMAB
     Route: 065
  2054. RITUXIMAB [Suspect]
     Active Substance: RITUXIMAB
     Route: 065
  2055. RITUXIMAB [Suspect]
     Active Substance: RITUXIMAB
     Route: 065
  2056. RITUXIMAB [Suspect]
     Active Substance: RITUXIMAB
     Route: 065
  2057. RITUXIMAB [Suspect]
     Active Substance: RITUXIMAB
     Route: 065
  2058. RITUXIMAB [Suspect]
     Active Substance: RITUXIMAB
     Route: 065
  2059. RITUXIMAB [Suspect]
     Active Substance: RITUXIMAB
     Route: 065
  2060. RITUXIMAB [Suspect]
     Active Substance: RITUXIMAB
     Route: 065
  2061. RITUXIMAB [Suspect]
     Active Substance: RITUXIMAB
     Route: 065
  2062. RITUXIMAB [Suspect]
     Active Substance: RITUXIMAB
     Route: 065
  2063. RITUXIMAB [Suspect]
     Active Substance: RITUXIMAB
     Route: 065
  2064. RITUXIMAB [Suspect]
     Active Substance: RITUXIMAB
     Route: 065
  2065. RITUXIMAB [Suspect]
     Active Substance: RITUXIMAB
     Route: 065
  2066. RITUXIMAB [Suspect]
     Active Substance: RITUXIMAB
     Route: 065
  2067. RITUXIMAB [Suspect]
     Active Substance: RITUXIMAB
     Route: 065
  2068. RITUXIMAB [Suspect]
     Active Substance: RITUXIMAB
     Route: 065
  2069. RITUXIMAB [Suspect]
     Active Substance: RITUXIMAB
     Route: 065
  2070. RITUXIMAB [Suspect]
     Active Substance: RITUXIMAB
     Route: 065
  2071. DAPSONE [Suspect]
     Active Substance: DAPSONE
     Indication: Antiphospholipid syndrome
     Route: 065

REACTIONS (7)
  - Angioedema [Unknown]
  - Emotional distress [Unknown]
  - Mental disorder [Unknown]
  - Emotional distress [Unknown]
  - Disease recurrence [Unknown]
  - Chronic spontaneous urticaria [Unknown]
  - Treatment failure [Unknown]
